FAERS Safety Report 21200509 (Version 47)
Quarter: 2025Q4

REPORT INFORMATION
  Report Type: Spontaneous
  Country: CA (occurrence: CA)
  Receive Date: 20220811
  Receipt Date: 20251210
  Transmission Date: 20260118
  Serious: Yes (Hospitalization, Other)
  Sender: BAUSCH AND LOMB
  Company Number: CA-BAUSCH-BL-2020-022260

PATIENT
  Age: 41 Year
  Sex: Female

DRUGS (836)
  1. DEXAMETHASONE [Suspect]
     Active Substance: DEXAMETHASONE
     Indication: Migraine
     Dosage: 2 ADMINISTRATIONS
     Route: 065
  2. DEXAMETHASONE [Suspect]
     Active Substance: DEXAMETHASONE
     Dosage: 2 ADMINISTRATIONS
     Route: 065
  3. DEXAMETHASONE [Suspect]
     Active Substance: DEXAMETHASONE
     Dosage: NOT SPECIFIED
     Route: 065
  4. DEXAMETHASONE [Suspect]
     Active Substance: DEXAMETHASONE
     Route: 065
  5. DEXAMETHASONE [Suspect]
     Active Substance: DEXAMETHASONE
     Dosage: NOT SPECIFIED
     Route: 065
  6. DEXAMETHASONE [Suspect]
     Active Substance: DEXAMETHASONE
     Route: 065
  7. DEXAMETHASONE [Suspect]
     Active Substance: DEXAMETHASONE
     Route: 065
  8. DEXAMETHASONE [Suspect]
     Active Substance: DEXAMETHASONE
     Route: 065
  9. DEXAMETHASONE [Suspect]
     Active Substance: DEXAMETHASONE
     Route: 065
  10. DEXAMETHASONE [Suspect]
     Active Substance: DEXAMETHASONE
     Route: 065
  11. DEXAMETHASONE [Suspect]
     Active Substance: DEXAMETHASONE
     Route: 065
  12. DEXAMETHASONE SODIUM PHOSPHATE [Suspect]
     Active Substance: DEXAMETHASONE SODIUM PHOSPHATE
     Indication: Migraine
     Route: 065
  13. DEXAMETHASONE SODIUM PHOSPHATE [Suspect]
     Active Substance: DEXAMETHASONE SODIUM PHOSPHATE
     Dosage: 2 ADMINISTRATIONS
     Route: 065
  14. DEXAMETHASONE SODIUM PHOSPHATE [Suspect]
     Active Substance: DEXAMETHASONE SODIUM PHOSPHATE
     Dosage: 2 ADMINISTRATION
     Route: 048
  15. DEXAMETHASONE SODIUM PHOSPHATE [Suspect]
     Active Substance: DEXAMETHASONE SODIUM PHOSPHATE
     Dosage: 2 ADMINISTRATION
     Route: 048
  16. DEXAMETHASONE SODIUM PHOSPHATE [Suspect]
     Active Substance: DEXAMETHASONE SODIUM PHOSPHATE
     Dosage: 2 ADMINISTRATION
     Route: 048
  17. VENLAFAXINE HYDROCHLORIDE [Suspect]
     Active Substance: VENLAFAXINE HYDROCHLORIDE
     Indication: Migraine
     Dosage: VENLAFAXINE HYDROCHLORIDE
     Route: 065
  18. VENLAFAXINE HYDROCHLORIDE [Suspect]
     Active Substance: VENLAFAXINE HYDROCHLORIDE
     Dosage: VENLAFAXINE HYDROCHLORIDE
     Route: 065
  19. VENLAFAXINE HYDROCHLORIDE [Suspect]
     Active Substance: VENLAFAXINE HYDROCHLORIDE
     Dosage: VENLAFAXINE HYDROCHLORIDE
     Route: 065
  20. VENLAFAXINE HYDROCHLORIDE [Suspect]
     Active Substance: VENLAFAXINE HYDROCHLORIDE
     Dosage: VENLAFAXINE
     Route: 065
  21. VENLAFAXINE HYDROCHLORIDE [Suspect]
     Active Substance: VENLAFAXINE HYDROCHLORIDE
     Route: 065
  22. VENLAFAXINE HYDROCHLORIDE [Suspect]
     Active Substance: VENLAFAXINE HYDROCHLORIDE
     Dosage: VENLAFAXINE HYDROCHLORIDE
     Route: 065
  23. VENLAFAXINE HYDROCHLORIDE [Suspect]
     Active Substance: VENLAFAXINE HYDROCHLORIDE
     Dosage: SANDOZ VENLAFAXINE XR
     Route: 065
  24. VENLAFAXINE HYDROCHLORIDE [Suspect]
     Active Substance: VENLAFAXINE HYDROCHLORIDE
     Dosage: VENLAFAXINE
     Route: 065
  25. VENLAFAXINE HYDROCHLORIDE [Suspect]
     Active Substance: VENLAFAXINE HYDROCHLORIDE
     Dosage: VENLAFAXINE HYDROCHLORIDE
     Route: 065
  26. VENLAFAXINE HYDROCHLORIDE [Suspect]
     Active Substance: VENLAFAXINE HYDROCHLORIDE
     Route: 065
  27. VENLAFAXINE HYDROCHLORIDE [Suspect]
     Active Substance: VENLAFAXINE HYDROCHLORIDE
     Dosage: VENLAFAXINE HYDROCHLORIDE
     Route: 065
  28. ALBUTEROL [Suspect]
     Active Substance: ALBUTEROL
     Indication: Product used for unknown indication
     Dosage: SALBUTAMOL
     Route: 065
  29. ALBUTEROL [Suspect]
     Active Substance: ALBUTEROL
     Dosage: SALBUTAMOL SULFATE
     Route: 065
  30. ALBUTEROL [Suspect]
     Active Substance: ALBUTEROL
     Dosage: SALBUTAMOL
     Route: 065
  31. ALBUTEROL [Suspect]
     Active Substance: ALBUTEROL
     Route: 065
  32. ALBUTEROL [Suspect]
     Active Substance: ALBUTEROL
     Dosage: SALBUTAMOL, 2 ADMINISTRATIONS
     Route: 065
  33. ALBUTEROL [Suspect]
     Active Substance: ALBUTEROL
     Route: 065
  34. ALBUTEROL [Suspect]
     Active Substance: ALBUTEROL
     Dosage: SALBUTAMOL 4 ADMINISTRATIONS
     Route: 065
  35. ALBUTEROL [Suspect]
     Active Substance: ALBUTEROL
     Dosage: SALBUTAMOL
     Route: 065
  36. ALBUTEROL [Suspect]
     Active Substance: ALBUTEROL
     Dosage: SALBUTAMOL SULFATE
     Route: 065
  37. ALBUTEROL [Suspect]
     Active Substance: ALBUTEROL
     Dosage: SALBUTAMOL
     Route: 065
  38. ALBUTEROL [Suspect]
     Active Substance: ALBUTEROL
     Dosage: SALBUTAMOL
     Route: 065
  39. ALBUTEROL [Suspect]
     Active Substance: ALBUTEROL
     Dosage: SALBUTAMOL
     Route: 065
  40. ALBUTEROL [Suspect]
     Active Substance: ALBUTEROL
     Dosage: SALBUTAMOL
     Route: 065
  41. ALBUTEROL [Suspect]
     Active Substance: ALBUTEROL
     Dosage: SALBUTAMOL
     Route: 065
  42. ALBUTEROL [Suspect]
     Active Substance: ALBUTEROL
     Dosage: SALBUTAMOL 2 ADMINISTRATIONS
     Route: 065
  43. ALBUTEROL [Suspect]
     Active Substance: ALBUTEROL
     Route: 065
  44. ALBUTEROL [Suspect]
     Active Substance: ALBUTEROL
     Dosage: SALBUTAMOL
     Route: 065
  45. ALBUTEROL [Suspect]
     Active Substance: ALBUTEROL
     Route: 065
  46. ALBUTEROL [Suspect]
     Active Substance: ALBUTEROL
     Dosage: NOT SPECIFIED
     Route: 065
  47. ALBUTEROL [Suspect]
     Active Substance: ALBUTEROL
     Route: 065
  48. METRONIDAZOLE [Suspect]
     Active Substance: METRONIDAZOLE
     Indication: Migraine
     Route: 065
  49. TRAMADOL HYDROCHLORIDE [Suspect]
     Active Substance: TRAMADOL HYDROCHLORIDE
     Indication: Product used for unknown indication
     Dosage: TRAMADOL HYDROCHLORIDE; NOT SPECIFIED
     Route: 065
  50. TRAMADOL HYDROCHLORIDE [Suspect]
     Active Substance: TRAMADOL HYDROCHLORIDE
     Dosage: TRAMADOL
     Route: 065
  51. TRAMADOL HYDROCHLORIDE [Suspect]
     Active Substance: TRAMADOL HYDROCHLORIDE
     Dosage: TRAMADOL HYDROCHLORIDE (2 ADMINISTRATIONS)
     Route: 065
  52. TRAMADOL HYDROCHLORIDE [Suspect]
     Active Substance: TRAMADOL HYDROCHLORIDE
     Dosage: TRAMADOL HYDROCHLORIDE, NOT SPECIFIED
     Route: 065
  53. ACETAMINOPHEN [Suspect]
     Active Substance: ACETAMINOPHEN
     Indication: Migraine
     Route: 065
  54. ACETAMINOPHEN [Suspect]
     Active Substance: ACETAMINOPHEN
     Indication: Arthritis
     Dosage: 2 ADMINISTRATIONS
     Route: 065
  55. ACETAMINOPHEN [Suspect]
     Active Substance: ACETAMINOPHEN
     Dosage: ACETAMINOPHEN ARTHRITIS PAIN
     Route: 065
  56. ACETAMINOPHEN [Suspect]
     Active Substance: ACETAMINOPHEN
     Dosage: 2 ADMINISTRATIONS
     Route: 065
  57. ACETAMINOPHEN [Suspect]
     Active Substance: ACETAMINOPHEN
     Dosage: NOT SPECIFIED
     Route: 065
  58. ACETAMINOPHEN [Suspect]
     Active Substance: ACETAMINOPHEN
     Route: 065
  59. AZITHROMYCIN [Suspect]
     Active Substance: AZITHROMYCIN
     Indication: Migraine
     Dosage: 2 ADMINISTRATION
     Route: 065
  60. AZITHROMYCIN [Suspect]
     Active Substance: AZITHROMYCIN
     Route: 065
  61. AZITHROMYCIN [Suspect]
     Active Substance: AZITHROMYCIN
     Route: 065
  62. AZITHROMYCIN [Suspect]
     Active Substance: AZITHROMYCIN
     Route: 065
  63. AZITHROMYCIN [Suspect]
     Active Substance: AZITHROMYCIN
     Route: 065
  64. AZITHROMYCIN [Suspect]
     Active Substance: AZITHROMYCIN
     Dosage: 2 ADMINISTRATIONS GIVEN
     Route: 065
  65. AZITHROMYCIN [Suspect]
     Active Substance: AZITHROMYCIN
     Route: 065
  66. AZITHROMYCIN [Suspect]
     Active Substance: AZITHROMYCIN
     Route: 065
  67. AZITHROMYCIN [Suspect]
     Active Substance: AZITHROMYCIN
     Dosage: 14 ADMINISTRATION, AZITHROMYCIN DIHYDRATE
     Route: 065
  68. AZITHROMYCIN [Suspect]
     Active Substance: AZITHROMYCIN
     Route: 065
  69. AZITHROMYCIN [Suspect]
     Active Substance: AZITHROMYCIN
     Route: 065
  70. AZITHROMYCIN [Suspect]
     Active Substance: AZITHROMYCIN
     Route: 065
  71. AZITHROMYCIN [Suspect]
     Active Substance: AZITHROMYCIN
     Dosage: 2 ADMINISTRATIONS GIVEN
     Route: 065
  72. AZITHROMYCIN [Suspect]
     Active Substance: AZITHROMYCIN
     Dosage: DOSAGE FORM: NOT SPECIFIED
     Route: 065
  73. AZITHROMYCIN [Suspect]
     Active Substance: AZITHROMYCIN
     Dosage: AZITHROMYCIN ISOPROPANOLATE MONOHYDRATE; 02 TIMES ADINISTERED
     Route: 065
  74. AZITHROMYCIN [Suspect]
     Active Substance: AZITHROMYCIN
     Dosage: 7 ADMINISTRATIONS
     Route: 065
  75. AZITHROMYCIN [Suspect]
     Active Substance: AZITHROMYCIN
     Route: 065
  76. AZITHROMYCIN [Suspect]
     Active Substance: AZITHROMYCIN
     Dosage: 4 ADMINISTRATIONS
     Route: 065
  77. AZITHROMYCIN [Suspect]
     Active Substance: AZITHROMYCIN
     Dosage: AZITHROMYCIN DIHYDRATE
     Route: 065
  78. AZITHROMYCIN [Suspect]
     Active Substance: AZITHROMYCIN
     Dosage: AZITHROMYCIN DIHYDRATE
     Route: 065
  79. AZITHROMYCIN [Suspect]
     Active Substance: AZITHROMYCIN
     Dosage: 8 ADMINISTRATIONS, AZITHROMYCIN DIHYDRATE
     Route: 065
  80. AZITHROMYCIN [Suspect]
     Active Substance: AZITHROMYCIN
     Dosage: 8 ADMINISTRATION, AZITHROMYCIN DIHYDRATE
     Route: 065
  81. CIPROFLOXACIN [Suspect]
     Active Substance: CIPROFLOXACIN
     Indication: Migraine
     Dosage: CIPROFLOXACIN
     Route: 065
  82. CIPROFLOXACIN [Suspect]
     Active Substance: CIPROFLOXACIN
     Route: 065
  83. CIPROFLOXACIN [Suspect]
     Active Substance: CIPROFLOXACIN
     Dosage: CIPROFLOXACIN
     Route: 065
  84. CIPROFLOXACIN [Suspect]
     Active Substance: CIPROFLOXACIN
     Dosage: 2 EVERY 1 DAY
     Route: 065
  85. CIPROFLOXACIN [Suspect]
     Active Substance: CIPROFLOXACIN
     Dosage: CIPROFLOXACIN
     Route: 065
  86. CIPROFLOXACIN [Suspect]
     Active Substance: CIPROFLOXACIN
     Dosage: 2 ADMINISTRATIONS, CIPROFLOXACIN HYDROCHLORIDE
     Route: 065
  87. CIPROFLOXACIN [Suspect]
     Active Substance: CIPROFLOXACIN
     Dosage: CIPROFLOXACIN HYDROCHLORIDE?2ADMINISTRATIONS
     Route: 065
  88. CIPROFLOXACIN [Suspect]
     Active Substance: CIPROFLOXACIN
     Dosage: 2 ADMINISTRATIONS, CIPROFLOXACIN HYDROCHLORIDE
     Route: 065
  89. CIPROFLOXACIN [Suspect]
     Active Substance: CIPROFLOXACIN
     Dosage: CIPROFLOXACIN HYDROCHLORIDE
     Route: 048
  90. CIPROFLOXACIN [Suspect]
     Active Substance: CIPROFLOXACIN
     Dosage: CIPROFLOXACIN HYDROCHLORIDE
     Route: 065
  91. CIPROFLOXACIN [Suspect]
     Active Substance: CIPROFLOXACIN
     Dosage: CIPROFLOXACIN LACTATE
     Route: 065
  92. CIPROFLOXACIN [Suspect]
     Active Substance: CIPROFLOXACIN
     Dosage: CIPROFLOXACIN LACTATE
     Route: 065
  93. CIPROFLOXACIN [Suspect]
     Active Substance: CIPROFLOXACIN
     Dosage: CIPROFLOXACIN LACTATE
     Route: 065
  94. CIPROFLOXACIN [Suspect]
     Active Substance: CIPROFLOXACIN
     Dosage: CIPROFLOXACIN
     Route: 048
  95. CIPROFLOXACIN [Suspect]
     Active Substance: CIPROFLOXACIN
     Dosage: CIPROFLOXACIN
     Route: 065
  96. CIPROFLOXACIN [Suspect]
     Active Substance: CIPROFLOXACIN
     Dosage: CIPROFLOXACIN
     Route: 065
  97. CIPROFLOXACIN [Suspect]
     Active Substance: CIPROFLOXACIN
     Dosage: CIPROFLOXACIN HYDROCHLORIDE
     Route: 065
  98. CIPROFLOXACIN [Suspect]
     Active Substance: CIPROFLOXACIN
     Dosage: CIPROFLOXACIN HYDROCHLORIDE
     Route: 065
  99. CIPROFLOXACIN [Suspect]
     Active Substance: CIPROFLOXACIN
     Dosage: CIPROFLOXACIN HYDROCHLORIDE
     Route: 065
  100. CIPROFLOXACIN [Suspect]
     Active Substance: CIPROFLOXACIN
     Dosage: CIPROFLOXACIN LACTATE
     Route: 065
  101. CIPROFLOXACIN [Suspect]
     Active Substance: CIPROFLOXACIN
     Dosage: CIPROFLOXACIN
     Route: 048
  102. CIPROFLOXACIN [Suspect]
     Active Substance: CIPROFLOXACIN
     Dosage: CIPROFLOXACIN
     Route: 048
  103. CIPROFLOXACIN [Suspect]
     Active Substance: CIPROFLOXACIN
     Dosage: CIPROFLOXACIN
     Route: 048
  104. CIPROFLOXACIN [Suspect]
     Active Substance: CIPROFLOXACIN
     Dosage: CIPROFLOXACIN
     Route: 048
  105. CIPROFLOXACIN [Suspect]
     Active Substance: CIPROFLOXACIN
     Route: 065
  106. CIPROFLOXACIN [Suspect]
     Active Substance: CIPROFLOXACIN
     Route: 065
  107. CIPROFLOXACIN [Suspect]
     Active Substance: CIPROFLOXACIN
     Dosage: CIPROFLOXACIN
     Route: 065
  108. CIPROFLOXACIN [Suspect]
     Active Substance: CIPROFLOXACIN
     Dosage: CIPROFLOXACIN (4 ADMINISTRATIONS)
     Route: 048
  109. CIPROFLOXACIN [Suspect]
     Active Substance: CIPROFLOXACIN
     Dosage: CIPROFLOXACIN
     Route: 065
  110. CIPROFLOXACIN [Suspect]
     Active Substance: CIPROFLOXACIN
     Dosage: CIPROFLOXACIN
     Route: 065
  111. CIPROFLOXACIN [Suspect]
     Active Substance: CIPROFLOXACIN
     Dosage: CIPROFLOXACIN
     Route: 065
  112. CIPROFLOXACIN [Suspect]
     Active Substance: CIPROFLOXACIN
     Dosage: CIPROFLOXACIN
     Route: 065
  113. CIPROFLOXACIN [Suspect]
     Active Substance: CIPROFLOXACIN
     Dosage: CIPROFLOXACIN LACTATE
     Route: 065
  114. CIPROFLOXACIN [Suspect]
     Active Substance: CIPROFLOXACIN
     Dosage: CIPROFLOXACIN LACTATE
     Route: 065
  115. CIPROFLOXACIN [Suspect]
     Active Substance: CIPROFLOXACIN
     Dosage: CIPROFLOXACIN LACTATE
     Route: 065
  116. CIPROFLOXACIN [Suspect]
     Active Substance: CIPROFLOXACIN
     Dosage: CIPROFLOXACIN LACTATE
     Route: 065
  117. CIPROFLOXACIN [Suspect]
     Active Substance: CIPROFLOXACIN
     Route: 048
  118. CIPROFLOXACIN [Suspect]
     Active Substance: CIPROFLOXACIN
     Route: 065
  119. CIPROFLOXACIN [Suspect]
     Active Substance: CIPROFLOXACIN
     Route: 065
  120. CIPROFLOXACIN [Suspect]
     Active Substance: CIPROFLOXACIN
     Route: 065
  121. CIPROFLOXACIN [Suspect]
     Active Substance: CIPROFLOXACIN
     Route: 065
  122. CIPROFLOXACIN [Suspect]
     Active Substance: CIPROFLOXACIN
     Route: 065
  123. CIPROFLOXACIN [Suspect]
     Active Substance: CIPROFLOXACIN
     Dosage: CIPROFLOXACIN LACTATE
     Route: 065
  124. CIPROFLOXACIN [Suspect]
     Active Substance: CIPROFLOXACIN
     Dosage: CIPROFLOXACIN LACTATE
  125. CIPROFLOXACIN [Suspect]
     Active Substance: CIPROFLOXACIN
     Dosage: CIPROFLOXACIN HYDROCHLORIDE 2 ADMINISTRATIONS
     Route: 048
  126. CIPROFLOXACIN [Suspect]
     Active Substance: CIPROFLOXACIN
     Dosage: CIPROFLOXACIN HYDROCHLORIDE
     Route: 065
  127. CIPROFLOXACIN [Suspect]
     Active Substance: CIPROFLOXACIN
     Dosage: CIPROFLOXACIN LACTATE?3 ADMINISTRATIONS
     Route: 065
  128. CIPROFLOXACIN [Suspect]
     Active Substance: CIPROFLOXACIN
     Dosage: CIPROFLOXACIN HYDROCHLORIDE
     Route: 065
  129. CIPROFLOXACIN [Suspect]
     Active Substance: CIPROFLOXACIN
     Dosage: CIPROFLOXACIN HYDROCHLORIDE?2 ADMINISTRATIONS
     Route: 065
  130. CIPROFLOXACIN [Suspect]
     Active Substance: CIPROFLOXACIN
     Dosage: CIPROFLOXACIN HYDROCHLORIDE
     Route: 065
  131. CLARITHROMYCIN [Suspect]
     Active Substance: CLARITHROMYCIN
     Indication: Product used for unknown indication
     Dosage: NOT SPECIFIED (2 ADMINISTRATIONS)
     Route: 065
  132. CLARITHROMYCIN [Suspect]
     Active Substance: CLARITHROMYCIN
     Route: 065
  133. CLARITHROMYCIN [Suspect]
     Active Substance: CLARITHROMYCIN
     Dosage: NOT SPECIFIED
     Route: 065
  134. CLARITHROMYCIN [Suspect]
     Active Substance: CLARITHROMYCIN
     Dosage: NOT SPECIFIED 2 ADMINISTRATIONS
     Route: 065
  135. CLARITHROMYCIN [Suspect]
     Active Substance: CLARITHROMYCIN
     Dosage: NOT SPECIFIED
     Route: 065
  136. CLARITHROMYCIN [Suspect]
     Active Substance: CLARITHROMYCIN
     Dosage: NOT SPECIFIED
     Route: 065
  137. CLARITHROMYCIN [Suspect]
     Active Substance: CLARITHROMYCIN
     Route: 065
  138. CLARITHROMYCIN [Suspect]
     Active Substance: CLARITHROMYCIN
     Route: 065
  139. CLARITHROMYCIN [Suspect]
     Active Substance: CLARITHROMYCIN
     Dosage: 4 ADMINISTRATIONS
     Route: 065
  140. CLARITHROMYCIN [Suspect]
     Active Substance: CLARITHROMYCIN
     Dosage: 4 ADMINISTRATIONS
     Route: 065
  141. CODEINE [Suspect]
     Active Substance: CODEINE
     Indication: Migraine
     Route: 065
  142. CODEINE [Suspect]
     Active Substance: CODEINE
     Dosage: CODEINE
     Route: 065
  143. CODEINE [Suspect]
     Active Substance: CODEINE
     Dosage: CODEINE SULFATE
     Route: 065
  144. CODEINE [Suspect]
     Active Substance: CODEINE
     Route: 065
  145. CODEINE [Suspect]
     Active Substance: CODEINE
     Dosage: CODEINE
     Route: 048
  146. CODEINE [Suspect]
     Active Substance: CODEINE
     Route: 048
  147. CODEINE [Suspect]
     Active Substance: CODEINE
     Dosage: NOT SPECIFIED
     Route: 065
  148. CODEINE [Suspect]
     Active Substance: CODEINE
     Route: 065
  149. CODEINE [Suspect]
     Active Substance: CODEINE
     Dosage: CODEINE SULFATE
     Route: 065
  150. DULOXETINE [Suspect]
     Active Substance: DULOXETINE
     Indication: Migraine
     Dosage: DULOXETINE
     Route: 065
  151. DULOXETINE [Suspect]
     Active Substance: DULOXETINE
     Dosage: DULOXETINE HYDROCHLORIDE, CAPSULE, DELAYED RELEASE
     Route: 065
  152. DULOXETINE [Suspect]
     Active Substance: DULOXETINE
     Dosage: DULOXETINE HYDROCHLORIDE?2 ADMINISTRATIONS
     Route: 065
  153. DULOXETINE [Suspect]
     Active Substance: DULOXETINE
     Dosage: DULOXETINE HYDROCHLORIDE, GASTRO-RESISTANT CAPSULE, HARD
     Route: 065
  154. DULOXETINE [Suspect]
     Active Substance: DULOXETINE
     Dosage: CAPSULE, DELAYED RELEASE
     Route: 065
  155. DULOXETINE [Suspect]
     Active Substance: DULOXETINE
     Route: 065
  156. DULOXETINE [Suspect]
     Active Substance: DULOXETINE
     Dosage: DULOXETINE HYDROCHLORIDE, CAPSULE, DELAYED?RELEASE
     Route: 065
  157. DULOXETINE [Suspect]
     Active Substance: DULOXETINE
     Dosage: DULOXETINE HYDROCHLORIDE
     Route: 065
  158. FLUCONAZOLE [Suspect]
     Active Substance: FLUCONAZOLE
     Indication: Migraine
     Route: 065
  159. FLUCONAZOLE [Suspect]
     Active Substance: FLUCONAZOLE
     Dosage: NOT SPECIFIED 2 ADMINISTRATIONS
     Route: 065
  160. FLUCONAZOLE [Suspect]
     Active Substance: FLUCONAZOLE
     Route: 065
  161. FLUCONAZOLE [Suspect]
     Active Substance: FLUCONAZOLE
     Route: 065
  162. FLUCONAZOLE [Suspect]
     Active Substance: FLUCONAZOLE
     Route: 065
  163. FLUCONAZOLE [Suspect]
     Active Substance: FLUCONAZOLE
     Route: 065
  164. HYDROMORPHONE [Suspect]
     Active Substance: HYDROMORPHONE
     Indication: Migraine
     Dosage: 11 ADMINISTRATIONS
     Route: 065
  165. HYDROMORPHONE [Suspect]
     Active Substance: HYDROMORPHONE
     Route: 065
  166. HYDROMORPHONE [Suspect]
     Active Substance: HYDROMORPHONE
     Route: 065
  167. HYDROMORPHONE [Suspect]
     Active Substance: HYDROMORPHONE
     Route: 065
  168. HYDROMORPHONE [Suspect]
     Active Substance: HYDROMORPHONE
     Route: 065
  169. HYDROMORPHONE [Suspect]
     Active Substance: HYDROMORPHONE
     Route: 065
  170. HYDROMORPHONE [Suspect]
     Active Substance: HYDROMORPHONE
     Route: 065
  171. HYDROMORPHONE [Suspect]
     Active Substance: HYDROMORPHONE
     Dosage: 1 ADMINISTRATION GIVEN
     Route: 065
  172. HYDROMORPHONE [Suspect]
     Active Substance: HYDROMORPHONE
     Route: 065
  173. HYDROMORPHONE [Suspect]
     Active Substance: HYDROMORPHONE
     Route: 065
  174. HYDROMORPHONE [Suspect]
     Active Substance: HYDROMORPHONE
     Route: 065
  175. HYDROMORPHONE [Suspect]
     Active Substance: HYDROMORPHONE
     Route: 065
  176. HYDROMORPHONE [Suspect]
     Active Substance: HYDROMORPHONE
     Route: 065
  177. HYDROMORPHONE [Suspect]
     Active Substance: HYDROMORPHONE
     Route: 065
  178. HYDROMORPHONE [Suspect]
     Active Substance: HYDROMORPHONE
     Route: 065
  179. HYDROMORPHONE [Suspect]
     Active Substance: HYDROMORPHONE
     Route: 005
  180. HYDROMORPHONE [Suspect]
     Active Substance: HYDROMORPHONE
     Dosage: HYDROMORPHONE HYDROCHLORIDE 3ADMINISTRATIONS
     Route: 065
  181. HYDROMORPHONE [Suspect]
     Active Substance: HYDROMORPHONE
     Route: 065
  182. HYDROMORPHONE [Suspect]
     Active Substance: HYDROMORPHONE
     Route: 065
  183. HYDROMORPHONE [Suspect]
     Active Substance: HYDROMORPHONE
     Route: 065
  184. HYDROMORPHONE [Suspect]
     Active Substance: HYDROMORPHONE
     Route: 065
  185. HYDROMORPHONE [Suspect]
     Active Substance: HYDROMORPHONE
     Route: 065
  186. HYDROMORPHONE [Suspect]
     Active Substance: HYDROMORPHONE
     Route: 065
  187. HYDROMORPHONE [Suspect]
     Active Substance: HYDROMORPHONE
     Dosage: HYDROMORPHONE HYDROCHLORIDE
     Route: 065
  188. HYDROMORPHONE [Suspect]
     Active Substance: HYDROMORPHONE
     Dosage: HYDROMORPHONE
     Route: 065
  189. HYDROMORPHONE [Suspect]
     Active Substance: HYDROMORPHONE
     Dosage: HYDROMORPHONE
     Route: 065
  190. HYDROMORPHONE [Suspect]
     Active Substance: HYDROMORPHONE
     Dosage: HYDROMORPHONE
     Route: 065
  191. HYDROMORPHONE [Suspect]
     Active Substance: HYDROMORPHONE
     Dosage: HYDROMORPHONE HYDROCHLORIDE
     Route: 065
  192. HYDROMORPHONE [Suspect]
     Active Substance: HYDROMORPHONE
     Dosage: HYDROMORPHONE HYDROCHLORIDE
     Route: 005
  193. HYDROMORPHONE [Suspect]
     Active Substance: HYDROMORPHONE
     Dosage: HYDROMORPHONE, 12 ADMINISTRATIONS GIVEN
     Route: 065
  194. HYDROMORPHONE [Suspect]
     Active Substance: HYDROMORPHONE
     Dosage: HYDROMORPHONE
     Route: 065
  195. HYDROMORPHONE [Suspect]
     Active Substance: HYDROMORPHONE
     Dosage: HYDROMORPHONE
     Route: 065
  196. HYDROMORPHONE [Suspect]
     Active Substance: HYDROMORPHONE
     Dosage: HYDROMORPHONE, 2 ADMINISTRATIONS GIVEN
     Route: 065
  197. HYDROMORPHONE [Suspect]
     Active Substance: HYDROMORPHONE
     Dosage: HYDROMORPHONE
     Route: 065
  198. HYDROMORPHONE [Suspect]
     Active Substance: HYDROMORPHONE
     Dosage: HYDROMORPHONE
     Route: 065
  199. HYDROMORPHONE [Suspect]
     Active Substance: HYDROMORPHONE
     Dosage: HYDROMORPHONE
     Route: 065
  200. HYDROMORPHONE [Suspect]
     Active Substance: HYDROMORPHONE
     Dosage: HYDROMORPHONE, 3 ADMINISTRATIONS GIVEN
     Route: 065
  201. HYDROMORPHONE [Suspect]
     Active Substance: HYDROMORPHONE
     Dosage: HYDROMORPHONE, 2 ADMINISTRATIONS GIVEN
     Route: 065
  202. HYDROMORPHONE [Suspect]
     Active Substance: HYDROMORPHONE
     Dosage: HYDROMORPHONE, 3 ADMINISTRATIONS GIVEN
     Route: 065
  203. HYDROMORPHONE [Suspect]
     Active Substance: HYDROMORPHONE
     Route: 065
  204. HYDROMORPHONE [Suspect]
     Active Substance: HYDROMORPHONE
     Route: 065
  205. HYDROMORPHONE [Suspect]
     Active Substance: HYDROMORPHONE
     Route: 065
  206. HYDROMORPHONE [Suspect]
     Active Substance: HYDROMORPHONE
     Route: 065
  207. HYDROMORPHONE [Suspect]
     Active Substance: HYDROMORPHONE
     Route: 065
  208. HYDROMORPHONE [Suspect]
     Active Substance: HYDROMORPHONE
     Route: 065
  209. HYDROMORPHONE [Suspect]
     Active Substance: HYDROMORPHONE
     Route: 065
  210. HYDROMORPHONE [Suspect]
     Active Substance: HYDROMORPHONE
     Route: 065
  211. HYDROMORPHONE [Suspect]
     Active Substance: HYDROMORPHONE
     Route: 065
  212. HYDROMORPHONE [Suspect]
     Active Substance: HYDROMORPHONE
     Route: 065
  213. HYDROMORPHONE [Suspect]
     Active Substance: HYDROMORPHONE
     Route: 065
  214. HYDROMORPHONE [Suspect]
     Active Substance: HYDROMORPHONE
     Dosage: 41 ADMINISTRATIONS
     Route: 065
  215. HYDROMORPHONE [Suspect]
     Active Substance: HYDROMORPHONE
     Dosage: HYDROMORPHONE HYDROCHLORIDE
     Route: 065
  216. HYDROMORPHONE [Suspect]
     Active Substance: HYDROMORPHONE
     Dosage: HYDROMORPHONE HYDROCHLORIDE
     Route: 065
  217. HYDROMORPHONE [Suspect]
     Active Substance: HYDROMORPHONE
     Dosage: HYDROMORPHONE HYDROCHLORIDE
     Route: 065
  218. HYDROMORPHONE [Suspect]
     Active Substance: HYDROMORPHONE
     Dosage: HYDROMORPHONE HYDROCHLORIDE?11 ADMINISTRATION
     Route: 065
  219. HYDROMORPHONE [Suspect]
     Active Substance: HYDROMORPHONE
     Dosage: HYDROMORPHONE HYDROCHLORIDE?11 ADMINISTRATIONS
     Route: 065
  220. HYDROMORPHONE [Suspect]
     Active Substance: HYDROMORPHONE
     Dosage: HYDROMORPHONE HYDROCHLORIDE
     Route: 065
  221. HYDROMORPHONE [Suspect]
     Active Substance: HYDROMORPHONE
     Dosage: HYDROMORPHONE HYDROCHLORIDE
     Route: 065
  222. HYDROMORPHONE [Suspect]
     Active Substance: HYDROMORPHONE
     Dosage: HYDROMORPHONE HYDROCHLORIDE
     Route: 065
  223. HYDROMORPHONE [Suspect]
     Active Substance: HYDROMORPHONE
     Dosage: HYDROMORPHONE HYDROCHLORIDE
     Route: 065
  224. HYDROMORPHONE [Suspect]
     Active Substance: HYDROMORPHONE
     Dosage: HYDROMORPHONE HYDROCHLORIDE
     Route: 065
  225. HYDROMORPHONE [Suspect]
     Active Substance: HYDROMORPHONE
     Dosage: HYDROMORPHONE HYDROCHLORIDE?3 ADMINISTRATIONS
     Route: 065
  226. HYDROMORPHONE [Suspect]
     Active Substance: HYDROMORPHONE
     Dosage: HYDROMORPHONE HYDROCHLORIDE
     Route: 065
  227. LISINOPRIL [Suspect]
     Active Substance: LISINOPRIL
     Indication: Migraine
     Route: 065
  228. LISINOPRIL [Suspect]
     Active Substance: LISINOPRIL
     Route: 065
  229. LISINOPRIL [Suspect]
     Active Substance: LISINOPRIL
     Route: 065
  230. LISINOPRIL [Suspect]
     Active Substance: LISINOPRIL
     Route: 065
  231. LISINOPRIL [Suspect]
     Active Substance: LISINOPRIL
     Dosage: LISINOPRIL DIHYDRATE
     Route: 065
  232. LISINOPRIL [Suspect]
     Active Substance: LISINOPRIL
     Route: 065
  233. LISINOPRIL [Suspect]
     Active Substance: LISINOPRIL
     Route: 065
  234. LISINOPRIL [Suspect]
     Active Substance: LISINOPRIL
     Route: 048
  235. LISINOPRIL [Suspect]
     Active Substance: LISINOPRIL
     Route: 065
  236. LISINOPRIL [Suspect]
     Active Substance: LISINOPRIL
     Route: 048
  237. LISINOPRIL [Suspect]
     Active Substance: LISINOPRIL
     Route: 065
  238. LISINOPRIL [Suspect]
     Active Substance: LISINOPRIL
     Route: 048
  239. LISINOPRIL [Suspect]
     Active Substance: LISINOPRIL
     Route: 048
  240. LISINOPRIL [Suspect]
     Active Substance: LISINOPRIL
     Route: 065
  241. LISINOPRIL [Suspect]
     Active Substance: LISINOPRIL
     Route: 048
  242. LISINOPRIL [Suspect]
     Active Substance: LISINOPRIL
     Dosage: 6 ADMINISTRATIONS
     Route: 065
  243. LISINOPRIL [Suspect]
     Active Substance: LISINOPRIL
     Dosage: 3 ADMINISTRATIONS
     Route: 065
  244. LISINOPRIL [Suspect]
     Active Substance: LISINOPRIL
     Route: 065
  245. LISINOPRIL [Suspect]
     Active Substance: LISINOPRIL
     Route: 065
  246. LISINOPRIL [Suspect]
     Active Substance: LISINOPRIL
     Route: 065
  247. MOMETASONE [Suspect]
     Active Substance: MOMETASONE
     Indication: Migraine
     Dosage: MOMETASONE; SPRAY, METERED DOSE
     Route: 065
  248. MOMETASONE [Suspect]
     Active Substance: MOMETASONE
     Dosage: MOMETASONE
     Route: 065
  249. MOMETASONE [Suspect]
     Active Substance: MOMETASONE
     Dosage: MOMETASONE
     Route: 065
  250. MOMETASONE [Suspect]
     Active Substance: MOMETASONE
     Dosage: MOMETASONE
     Route: 065
  251. MOMETASONE [Suspect]
     Active Substance: MOMETASONE
     Dosage: MOMETASONE
     Route: 065
  252. MOMETASONE [Suspect]
     Active Substance: MOMETASONE
     Dosage: MOMETASONE (4 ADMINISTRATIONS); MOMETASONE FUROATE
     Route: 065
  253. MOMETASONE [Suspect]
     Active Substance: MOMETASONE
     Dosage: MOMETASONE FUROATE
     Route: 055
  254. MOMETASONE [Suspect]
     Active Substance: MOMETASONE
     Dosage: MOMETASONE FUROATE
     Route: 055
  255. MOMETASONE [Suspect]
     Active Substance: MOMETASONE
     Dosage: MOMETASONE FUROATE
     Route: 065
  256. MOMETASONE [Suspect]
     Active Substance: MOMETASONE
     Dosage: MOMETASONE FUROATE
     Route: 065
  257. MOMETASONE [Suspect]
     Active Substance: MOMETASONE
     Dosage: MOMETASONE FUROATE
     Route: 065
  258. MOMETASONE [Suspect]
     Active Substance: MOMETASONE
     Dosage: MOMETASONE FUROATE
     Route: 065
  259. MOMETASONE [Suspect]
     Active Substance: MOMETASONE
     Dosage: MOMETASONE FUROATE
     Route: 065
  260. MOMETASONE [Suspect]
     Active Substance: MOMETASONE
     Dosage: MOMETASONE FUROATE AND MOMETASONE
     Route: 065
  261. MOMETASONE [Suspect]
     Active Substance: MOMETASONE
     Dosage: MOMETASONE FUROATE
     Route: 065
  262. MOMETASONE [Suspect]
     Active Substance: MOMETASONE
     Dosage: MOMETASONE, 2 ADMINISTRATIONS GIVEN
     Route: 065
  263. MOMETASONE [Suspect]
     Active Substance: MOMETASONE
     Dosage: MOMETASONE, 2 ADMINISTRATIONS GIVEN
     Route: 065
  264. MOMETASONE [Suspect]
     Active Substance: MOMETASONE
     Dosage: MOMETASONE
     Route: 065
  265. MOMETASONE [Suspect]
     Active Substance: MOMETASONE
     Dosage: MOMETASONE
     Route: 065
  266. MOMETASONE [Suspect]
     Active Substance: MOMETASONE
     Dosage: MOMETASONE
     Route: 065
  267. MOMETASONE [Suspect]
     Active Substance: MOMETASONE
     Route: 065
  268. MOMETASONE [Suspect]
     Active Substance: MOMETASONE
     Dosage: SPRAY, METERED DOSE
     Route: 065
  269. RABEPRAZOLE [Suspect]
     Active Substance: RABEPRAZOLE
     Indication: Migraine
     Dosage: RABEPRAZOLE SODIUM
     Route: 065
  270. RABEPRAZOLE [Suspect]
     Active Substance: RABEPRAZOLE
     Route: 065
  271. RABEPRAZOLE [Suspect]
     Active Substance: RABEPRAZOLE
     Route: 065
  272. RABEPRAZOLE [Suspect]
     Active Substance: RABEPRAZOLE
     Route: 065
  273. RABEPRAZOLE [Suspect]
     Active Substance: RABEPRAZOLE
     Route: 065
  274. RABEPRAZOLE [Suspect]
     Active Substance: RABEPRAZOLE
     Route: 065
  275. RABEPRAZOLE [Suspect]
     Active Substance: RABEPRAZOLE
     Route: 065
  276. RABEPRAZOLE [Suspect]
     Active Substance: RABEPRAZOLE
     Route: 065
  277. RABEPRAZOLE [Suspect]
     Active Substance: RABEPRAZOLE
     Route: 065
  278. RABEPRAZOLE [Suspect]
     Active Substance: RABEPRAZOLE
     Route: 065
  279. RABEPRAZOLE [Suspect]
     Active Substance: RABEPRAZOLE
     Route: 065
  280. RABEPRAZOLE [Suspect]
     Active Substance: RABEPRAZOLE
     Route: 065
  281. RABEPRAZOLE [Suspect]
     Active Substance: RABEPRAZOLE
     Route: 065
  282. RABEPRAZOLE [Suspect]
     Active Substance: RABEPRAZOLE
     Route: 065
  283. RABEPRAZOLE [Suspect]
     Active Substance: RABEPRAZOLE
     Route: 065
  284. RABEPRAZOLE [Suspect]
     Active Substance: RABEPRAZOLE
     Route: 065
  285. RABEPRAZOLE [Suspect]
     Active Substance: RABEPRAZOLE
     Route: 065
  286. RABEPRAZOLE [Suspect]
     Active Substance: RABEPRAZOLE
     Route: 065
  287. RABEPRAZOLE [Suspect]
     Active Substance: RABEPRAZOLE
     Route: 065
  288. RABEPRAZOLE [Suspect]
     Active Substance: RABEPRAZOLE
     Route: 065
  289. RABEPRAZOLE [Suspect]
     Active Substance: RABEPRAZOLE
     Dosage: RABEPRAZOLE SODIUM
     Route: 065
  290. RABEPRAZOLE [Suspect]
     Active Substance: RABEPRAZOLE
     Route: 065
  291. RABEPRAZOLE [Suspect]
     Active Substance: RABEPRAZOLE
     Route: 048
  292. RABEPRAZOLE [Suspect]
     Active Substance: RABEPRAZOLE
     Route: 048
  293. RABEPRAZOLE [Suspect]
     Active Substance: RABEPRAZOLE
     Dosage: RABEPRAZOLE
     Route: 048
  294. RABEPRAZOLE [Suspect]
     Active Substance: RABEPRAZOLE
     Dosage: RABEPRAZOLE
     Route: 048
  295. RABEPRAZOLE [Suspect]
     Active Substance: RABEPRAZOLE
     Dosage: RABEPRAZOLE SODIUM
     Route: 065
  296. RABEPRAZOLE [Suspect]
     Active Substance: RABEPRAZOLE
     Dosage: RABEPRAZOLE
     Route: 048
  297. RABEPRAZOLE [Suspect]
     Active Substance: RABEPRAZOLE
     Dosage: RABEPRAZOLE
     Route: 065
  298. RABEPRAZOLE [Suspect]
     Active Substance: RABEPRAZOLE
     Dosage: RABEPRAZOLE
     Route: 065
  299. RABEPRAZOLE [Suspect]
     Active Substance: RABEPRAZOLE
     Dosage: RABEPRAZOLE
     Route: 065
  300. RABEPRAZOLE [Suspect]
     Active Substance: RABEPRAZOLE
     Dosage: RABEPRAZOLE SODIUM
     Route: 065
  301. RABEPRAZOLE [Suspect]
     Active Substance: RABEPRAZOLE
     Dosage: RABEPRAZOLE SODIUM
     Route: 048
  302. RABEPRAZOLE [Suspect]
     Active Substance: RABEPRAZOLE
     Dosage: RABEPRAZOLE SODIUM
     Route: 048
  303. RABEPRAZOLE [Suspect]
     Active Substance: RABEPRAZOLE
     Dosage: RABEPRAZOLE SODIUM
     Route: 065
  304. RABEPRAZOLE [Suspect]
     Active Substance: RABEPRAZOLE
     Route: 065
  305. RABEPRAZOLE [Suspect]
     Active Substance: RABEPRAZOLE
     Dosage: RABEPRAZOLE
     Route: 065
  306. RABEPRAZOLE [Suspect]
     Active Substance: RABEPRAZOLE
     Dosage: RABEPRAZOLE
     Route: 065
  307. RABEPRAZOLE [Suspect]
     Active Substance: RABEPRAZOLE
     Dosage: RABEPRAZOLE
     Route: 065
  308. RABEPRAZOLE [Suspect]
     Active Substance: RABEPRAZOLE
     Dosage: RABEPRAZOLE, 2 ADMINISTRATIONS GIVEN
     Route: 065
  309. RABEPRAZOLE [Suspect]
     Active Substance: RABEPRAZOLE
     Dosage: RABEPRAZOLE
     Route: 065
  310. RABEPRAZOLE [Suspect]
     Active Substance: RABEPRAZOLE
     Dosage: RABEPRAZOLE
     Route: 065
  311. RABEPRAZOLE [Suspect]
     Active Substance: RABEPRAZOLE
     Dosage: RABEPRAZOLE
     Route: 065
  312. RABEPRAZOLE [Suspect]
     Active Substance: RABEPRAZOLE
     Dosage: RABEPRAZOLE, 2 ADMINISTRATIONS GIVEN
     Route: 065
  313. RABEPRAZOLE [Suspect]
     Active Substance: RABEPRAZOLE
     Dosage: RABEPRAZOLE, 2 ADMINISTRATIONS GIVEN
     Route: 065
  314. RABEPRAZOLE [Suspect]
     Active Substance: RABEPRAZOLE
     Dosage: RABEPRAZOLE, 2 ADMINISTRATIONS GIVEN
     Route: 065
  315. RABEPRAZOLE [Suspect]
     Active Substance: RABEPRAZOLE
     Dosage: RABEPRAZOLE, 2 ADMINISTRATIONS GIVEN
     Route: 065
  316. RABEPRAZOLE [Suspect]
     Active Substance: RABEPRAZOLE
     Dosage: RABEPRAZOLE, 2 ADMINISTRATIONS GIVEN
     Route: 065
  317. RABEPRAZOLE [Suspect]
     Active Substance: RABEPRAZOLE
     Dosage: RABEPRAZOLE, 2 ADMINISTRATIONS GIVEN
     Route: 065
  318. RABEPRAZOLE [Suspect]
     Active Substance: RABEPRAZOLE
     Dosage: RABEPRAZOLE, 2 ADMINISTRATIONS GIVEN
     Route: 065
  319. RABEPRAZOLE [Suspect]
     Active Substance: RABEPRAZOLE
     Route: 065
  320. RABEPRAZOLE [Suspect]
     Active Substance: RABEPRAZOLE
     Route: 065
  321. RABEPRAZOLE [Suspect]
     Active Substance: RABEPRAZOLE
     Route: 065
  322. RABEPRAZOLE [Suspect]
     Active Substance: RABEPRAZOLE
     Route: 065
  323. RABEPRAZOLE [Suspect]
     Active Substance: RABEPRAZOLE
     Route: 065
  324. RABEPRAZOLE [Suspect]
     Active Substance: RABEPRAZOLE
     Route: 065
  325. RABEPRAZOLE [Suspect]
     Active Substance: RABEPRAZOLE
     Route: 065
  326. RABEPRAZOLE [Suspect]
     Active Substance: RABEPRAZOLE
     Route: 065
  327. RABEPRAZOLE [Suspect]
     Active Substance: RABEPRAZOLE
     Route: 065
  328. RABEPRAZOLE [Suspect]
     Active Substance: RABEPRAZOLE
     Route: 065
  329. RABEPRAZOLE [Suspect]
     Active Substance: RABEPRAZOLE
     Route: 065
  330. RABEPRAZOLE [Suspect]
     Active Substance: RABEPRAZOLE
     Route: 065
  331. RABEPRAZOLE [Suspect]
     Active Substance: RABEPRAZOLE
     Route: 065
  332. RABEPRAZOLE [Suspect]
     Active Substance: RABEPRAZOLE
     Route: 065
  333. RABEPRAZOLE [Suspect]
     Active Substance: RABEPRAZOLE
     Route: 065
  334. RABEPRAZOLE [Suspect]
     Active Substance: RABEPRAZOLE
     Route: 065
  335. RABEPRAZOLE [Suspect]
     Active Substance: RABEPRAZOLE
     Route: 065
  336. RABEPRAZOLE [Suspect]
     Active Substance: RABEPRAZOLE
     Route: 065
  337. RABEPRAZOLE [Suspect]
     Active Substance: RABEPRAZOLE
     Route: 065
  338. RABEPRAZOLE [Suspect]
     Active Substance: RABEPRAZOLE
     Dosage: 19 ADMINISTRATIONS
     Route: 065
  339. RABEPRAZOLE [Suspect]
     Active Substance: RABEPRAZOLE
     Dosage: RABEPRAZOLE SODIUM
     Route: 048
  340. RABEPRAZOLE [Suspect]
     Active Substance: RABEPRAZOLE
     Dosage: RABEPRAZOLE SODIUM
     Route: 065
  341. RABEPRAZOLE [Suspect]
     Active Substance: RABEPRAZOLE
     Dosage: 2 ADMINISTRATIONS
     Route: 065
  342. RABEPRAZOLE [Suspect]
     Active Substance: RABEPRAZOLE
     Dosage: 2 ADMINISTRATIONS
     Route: 065
  343. RABEPRAZOLE [Suspect]
     Active Substance: RABEPRAZOLE
     Route: 048
  344. RABEPRAZOLE [Suspect]
     Active Substance: RABEPRAZOLE
     Route: 065
  345. TOPIRAMATE [Suspect]
     Active Substance: TOPIRAMATE
     Indication: Migraine
     Dosage: 2 ADMINISTRATIONS
     Route: 065
  346. TOPIRAMATE [Suspect]
     Active Substance: TOPIRAMATE
     Dosage: NOT SPECIFIED
     Route: 065
  347. TRIMETHOPRIM [Suspect]
     Active Substance: TRIMETHOPRIM
     Indication: Migraine
     Route: 065
  348. TRIMETHOPRIM [Suspect]
     Active Substance: TRIMETHOPRIM
     Route: 065
  349. TRIMETHOPRIM [Suspect]
     Active Substance: TRIMETHOPRIM
     Route: 065
  350. TRIMETHOPRIM [Suspect]
     Active Substance: TRIMETHOPRIM
     Route: 065
  351. TRIMETHOPRIM [Suspect]
     Active Substance: TRIMETHOPRIM
     Dosage: 2 ADMINISTRATIONS
     Route: 065
  352. TRIMETHOPRIM [Suspect]
     Active Substance: TRIMETHOPRIM
     Dosage: 2 ADMINISTRATIONS
     Route: 065
  353. TRIMETHOPRIM [Suspect]
     Active Substance: TRIMETHOPRIM
     Route: 065
  354. TRIMETHOPRIM [Suspect]
     Active Substance: TRIMETHOPRIM
     Route: 065
  355. ZOPICLONE [Suspect]
     Active Substance: ZOPICLONE
     Indication: Migraine
     Route: 065
  356. ZOPICLONE [Suspect]
     Active Substance: ZOPICLONE
     Route: 048
  357. ZOPICLONE [Suspect]
     Active Substance: ZOPICLONE
     Route: 065
  358. ZOPICLONE [Suspect]
     Active Substance: ZOPICLONE
     Route: 065
  359. ZOPICLONE [Suspect]
     Active Substance: ZOPICLONE
     Route: 065
  360. ZOPICLONE [Suspect]
     Active Substance: ZOPICLONE
     Route: 065
  361. ZOPICLONE [Suspect]
     Active Substance: ZOPICLONE
     Route: 065
  362. ZOPICLONE [Suspect]
     Active Substance: ZOPICLONE
     Route: 065
  363. ZOPICLONE [Suspect]
     Active Substance: ZOPICLONE
     Route: 065
  364. ZOPICLONE [Suspect]
     Active Substance: ZOPICLONE
     Route: 065
  365. ZOPICLONE [Suspect]
     Active Substance: ZOPICLONE
     Route: 065
  366. ZOPICLONE [Suspect]
     Active Substance: ZOPICLONE
     Route: 065
  367. ZOPICLONE [Suspect]
     Active Substance: ZOPICLONE
     Route: 065
  368. ZOPICLONE [Suspect]
     Active Substance: ZOPICLONE
     Route: 065
  369. ZOPICLONE [Suspect]
     Active Substance: ZOPICLONE
     Route: 065
  370. ZOPICLONE [Suspect]
     Active Substance: ZOPICLONE
     Route: 065
  371. ZOPICLONE [Suspect]
     Active Substance: ZOPICLONE
     Route: 065
  372. ZOPICLONE [Suspect]
     Active Substance: ZOPICLONE
     Route: 065
  373. ZOPICLONE [Suspect]
     Active Substance: ZOPICLONE
     Route: 065
  374. ZOPICLONE [Suspect]
     Active Substance: ZOPICLONE
     Route: 065
  375. ZOPICLONE [Suspect]
     Active Substance: ZOPICLONE
     Route: 065
  376. ZOPICLONE [Suspect]
     Active Substance: ZOPICLONE
     Route: 065
  377. ZOPICLONE [Suspect]
     Active Substance: ZOPICLONE
     Route: 065
  378. ZOPICLONE [Suspect]
     Active Substance: ZOPICLONE
     Route: 065
  379. ZOPICLONE [Suspect]
     Active Substance: ZOPICLONE
     Route: 065
  380. ZOPICLONE [Suspect]
     Active Substance: ZOPICLONE
     Route: 065
  381. ZOPICLONE [Suspect]
     Active Substance: ZOPICLONE
     Route: 065
  382. ZOPICLONE [Suspect]
     Active Substance: ZOPICLONE
     Route: 065
  383. ZOPICLONE [Suspect]
     Active Substance: ZOPICLONE
     Route: 065
  384. ZOPICLONE [Suspect]
     Active Substance: ZOPICLONE
     Route: 048
  385. ZOPICLONE [Suspect]
     Active Substance: ZOPICLONE
     Route: 065
  386. ZOPICLONE [Suspect]
     Active Substance: ZOPICLONE
     Route: 065
  387. ZOPICLONE [Suspect]
     Active Substance: ZOPICLONE
     Route: 065
  388. ZOPICLONE [Suspect]
     Active Substance: ZOPICLONE
     Route: 065
  389. ZOPICLONE [Suspect]
     Active Substance: ZOPICLONE
     Dosage: 19 ADMINISTRATIONS
     Route: 065
  390. ZOPICLONE [Suspect]
     Active Substance: ZOPICLONE
     Route: 065
  391. ZOPICLONE [Suspect]
     Active Substance: ZOPICLONE
     Dosage: 21 ADMINISTRATIONS
     Route: 065
  392. SUMATRIPTAN [Suspect]
     Active Substance: SUMATRIPTAN
     Indication: Migraine
     Dosage: SANDOZ SUMATRIPTAN
     Route: 065
  393. SUMATRIPTAN [Suspect]
     Active Substance: SUMATRIPTAN
     Dosage: SANDOZ SUMATRIPTAN
     Route: 065
  394. SUMATRIPTAN [Suspect]
     Active Substance: SUMATRIPTAN
     Dosage: SUMATRIPTAN SUCCINATE
     Route: 065
  395. SUMATRIPTAN [Suspect]
     Active Substance: SUMATRIPTAN
     Dosage: SUMATRIPTAN
     Route: 065
  396. SUMATRIPTAN [Suspect]
     Active Substance: SUMATRIPTAN
     Dosage: SUMATRIPTAN SUCCINATE (3 ADMINISTRATIONS)
     Route: 065
  397. SUMATRIPTAN [Suspect]
     Active Substance: SUMATRIPTAN
     Dosage: SUMATRIPTAN SUCCINATE
     Route: 065
  398. SUMATRIPTAN [Suspect]
     Active Substance: SUMATRIPTAN
     Dosage: TARO-SUMATRIPTAN
     Route: 065
  399. SUMATRIPTAN [Suspect]
     Active Substance: SUMATRIPTAN
     Dosage: TARO-SUMATRIPTAN SOLUTION SUBCUTANEOUS
     Route: 058
  400. SUMATRIPTAN [Suspect]
     Active Substance: SUMATRIPTAN
     Dosage: TARO-SUMATRIPTAN
     Route: 065
  401. SUMATRIPTAN [Suspect]
     Active Substance: SUMATRIPTAN
     Dosage: SUMATRIPTAN SUCCINATE 4 ADMINISTRATIONS
     Route: 065
  402. SUMATRIPTAN [Suspect]
     Active Substance: SUMATRIPTAN
     Dosage: SUMATRIPTAN SUCCINATE 3 ADMINISTRATIONS
     Route: 065
  403. SERTRALINE [Suspect]
     Active Substance: SERTRALINE HYDROCHLORIDE
     Indication: Migraine
     Route: 065
  404. SERTRALINE [Suspect]
     Active Substance: SERTRALINE HYDROCHLORIDE
     Dosage: SERTRALINE
     Route: 065
  405. SERTRALINE [Suspect]
     Active Substance: SERTRALINE HYDROCHLORIDE
     Dosage: SERTRALINE HYDROCHLORIDE 3 ADMINISTRATIONS
     Route: 065
  406. SERTRALINE [Suspect]
     Active Substance: SERTRALINE HYDROCHLORIDE
     Dosage: SERTRALINE HCL
     Route: 065
  407. SERTRALINE [Suspect]
     Active Substance: SERTRALINE HYDROCHLORIDE
     Dosage: SERTRALINE
     Route: 065
  408. SERTRALINE [Suspect]
     Active Substance: SERTRALINE HYDROCHLORIDE
     Route: 065
  409. SERTRALINE [Suspect]
     Active Substance: SERTRALINE HYDROCHLORIDE
     Dosage: SERTRALINE HYDROCHLORIDE
     Route: 065
  410. SERTRALINE [Suspect]
     Active Substance: SERTRALINE HYDROCHLORIDE
     Dosage: SERTRALINE HYDROCHLORIDE 2 ADMINISTRATIONS
     Route: 065
  411. PROPRANOLOL [Suspect]
     Active Substance: PROPRANOLOL HYDROCHLORIDE
     Indication: Migraine
     Dosage: PROPRANOLOL
     Route: 065
  412. PROPRANOLOL [Suspect]
     Active Substance: PROPRANOLOL HYDROCHLORIDE
     Dosage: PROPRANOLOL
     Route: 065
  413. PROPRANOLOL [Suspect]
     Active Substance: PROPRANOLOL HYDROCHLORIDE
     Dosage: PROPRANOLOL HYDROCHLORIDE
     Route: 048
  414. PROPRANOLOL [Suspect]
     Active Substance: PROPRANOLOL HYDROCHLORIDE
     Dosage: PROPRANOLOL HYDROCHLORIDE
     Route: 048
  415. PROPRANOLOL [Suspect]
     Active Substance: PROPRANOLOL HYDROCHLORIDE
     Dosage: PROPRANOLOL
     Route: 065
  416. PROPRANOLOL [Suspect]
     Active Substance: PROPRANOLOL HYDROCHLORIDE
     Dosage: PROPRANOLOL (3 YEARS)
     Route: 065
  417. PROPRANOLOL [Suspect]
     Active Substance: PROPRANOLOL HYDROCHLORIDE
     Dosage: PROPRANOLOL HYDROCHLORIDE
     Route: 065
  418. PROPRANOLOL [Suspect]
     Active Substance: PROPRANOLOL HYDROCHLORIDE
     Dosage: PROPRANOLOL HYDROCHLORIDE
     Route: 065
  419. PROPRANOLOL [Suspect]
     Active Substance: PROPRANOLOL HYDROCHLORIDE
     Dosage: PROPRANOLOL
     Route: 065
  420. PROPRANOLOL [Suspect]
     Active Substance: PROPRANOLOL HYDROCHLORIDE
     Dosage: PROPRANOLOL
     Route: 065
  421. PROPRANOLOL [Suspect]
     Active Substance: PROPRANOLOL HYDROCHLORIDE
     Dosage: PROPRANOLOL
     Route: 048
  422. PROPRANOLOL [Suspect]
     Active Substance: PROPRANOLOL HYDROCHLORIDE
     Dosage: PROPRANOLOL
     Route: 065
  423. PROPRANOLOL [Suspect]
     Active Substance: PROPRANOLOL HYDROCHLORIDE
     Dosage: PROPRANOLOL
     Route: 048
  424. PROPRANOLOL [Suspect]
     Active Substance: PROPRANOLOL HYDROCHLORIDE
     Dosage: PROPRANOLOL HYDROCHLORIDE
     Route: 065
  425. PROPRANOLOL [Suspect]
     Active Substance: PROPRANOLOL HYDROCHLORIDE
     Dosage: PROPRANOLOL HYDROCHLORIDE
     Route: 048
  426. PROPRANOLOL [Suspect]
     Active Substance: PROPRANOLOL HYDROCHLORIDE
     Dosage: PROPRANOLOL HYDROCHLORIDE
     Route: 048
  427. PROPRANOLOL [Suspect]
     Active Substance: PROPRANOLOL HYDROCHLORIDE
     Dosage: PROPRANOLOL HYDROCHLORIDE
     Route: 048
  428. PROPRANOLOL [Suspect]
     Active Substance: PROPRANOLOL HYDROCHLORIDE
     Dosage: PROPRANOLOL
     Route: 065
  429. PROPRANOLOL [Suspect]
     Active Substance: PROPRANOLOL HYDROCHLORIDE
     Dosage: PROPRANOLOL
     Route: 065
  430. PROPRANOLOL [Suspect]
     Active Substance: PROPRANOLOL HYDROCHLORIDE
     Dosage: PROPRANOLOL HYDROCHLORIDE
     Route: 065
  431. PROPRANOLOL [Suspect]
     Active Substance: PROPRANOLOL HYDROCHLORIDE
     Dosage: PROPRANOLOL HYDROCHLORIDE
     Route: 065
  432. PROPRANOLOL [Suspect]
     Active Substance: PROPRANOLOL HYDROCHLORIDE
     Dosage: PROPRANOLOL HYDROCHLORIDE
     Route: 048
  433. PROPRANOLOL [Suspect]
     Active Substance: PROPRANOLOL HYDROCHLORIDE
     Dosage: CYCLICAL
     Route: 048
  434. PROPRANOLOL [Suspect]
     Active Substance: PROPRANOLOL HYDROCHLORIDE
     Route: 065
  435. PROPRANOLOL [Suspect]
     Active Substance: PROPRANOLOL HYDROCHLORIDE
     Dosage: NOT SPECIFIED
     Route: 065
  436. PROPRANOLOL [Suspect]
     Active Substance: PROPRANOLOL HYDROCHLORIDE
     Dosage: PROPRANOLOL HYDROCHLORIDE
     Route: 065
  437. PROPRANOLOL [Suspect]
     Active Substance: PROPRANOLOL HYDROCHLORIDE
     Dosage: PROPRANOLOL HYDROCHLORIDE
     Route: 048
  438. PROPRANOLOL [Suspect]
     Active Substance: PROPRANOLOL HYDROCHLORIDE
     Dosage: PROPRANOLOL HYDROCHLORIDE
     Route: 048
  439. LANSOPRAZOLE [Suspect]
     Active Substance: LANSOPRAZOLE
     Indication: Migraine
     Dosage: DELAYED RELEASE CAPSULE
     Route: 065
  440. LANSOPRAZOLE [Suspect]
     Active Substance: LANSOPRAZOLE
     Dosage: 2 ADMINISTRATIONS
     Route: 065
  441. LANSOPRAZOLE [Suspect]
     Active Substance: LANSOPRAZOLE
     Route: 065
  442. LANSOPRAZOLE [Suspect]
     Active Substance: LANSOPRAZOLE
     Dosage: CAPSULE DELAYED RELEASE
     Route: 065
  443. ESCITALOPRAM [Suspect]
     Active Substance: ESCITALOPRAM OXALATE
     Indication: Migraine
     Dosage: ESCITALOPRAM
     Route: 065
  444. ESCITALOPRAM [Suspect]
     Active Substance: ESCITALOPRAM OXALATE
     Dosage: ESCITALOPRAM OXALATE
     Route: 065
  445. ESCITALOPRAM [Suspect]
     Active Substance: ESCITALOPRAM OXALATE
     Dosage: ESCITALOPRAM OXALATE
     Route: 048
  446. ESCITALOPRAM [Suspect]
     Active Substance: ESCITALOPRAM OXALATE
     Dosage: ESCITALOPRAM OXALATE?3 ADMINISTRATIONS
     Route: 065
  447. ESCITALOPRAM [Suspect]
     Active Substance: ESCITALOPRAM OXALATE
     Route: 065
  448. ESCITALOPRAM [Suspect]
     Active Substance: ESCITALOPRAM OXALATE
     Dosage: ESCITALOPRAM OXALATE
     Route: 065
  449. ESCITALOPRAM [Suspect]
     Active Substance: ESCITALOPRAM OXALATE
     Dosage: ESCITALOPRAM OXALATE
     Route: 048
  450. RIZATRIPTAN BENZOATE [Suspect]
     Active Substance: RIZATRIPTAN BENZOATE
     Indication: Migraine
     Route: 065
  451. RIZATRIPTAN BENZOATE [Suspect]
     Active Substance: RIZATRIPTAN BENZOATE
     Dosage: 2 ADMINISTRATIONS
     Route: 065
  452. RIZATRIPTAN BENZOATE [Suspect]
     Active Substance: RIZATRIPTAN BENZOATE
     Route: 065
  453. RIZATRIPTAN BENZOATE [Suspect]
     Active Substance: RIZATRIPTAN BENZOATE
     Dosage: RIZATRIPTAN
     Route: 065
  454. RIZATRIPTAN BENZOATE [Suspect]
     Active Substance: RIZATRIPTAN BENZOATE
     Dosage: RIZATRIPTAN
     Route: 065
  455. RIZATRIPTAN BENZOATE [Suspect]
     Active Substance: RIZATRIPTAN BENZOATE
     Dosage: RIZATRIPTAN BENZOATE
     Route: 065
  456. RIZATRIPTAN BENZOATE [Suspect]
     Active Substance: RIZATRIPTAN BENZOATE
     Dosage: RIZATRIPTAN BENZOATE
     Route: 065
  457. RIZATRIPTAN BENZOATE [Suspect]
     Active Substance: RIZATRIPTAN BENZOATE
     Dosage: RIZATRIPTAN BENZOATE
     Route: 065
  458. RIZATRIPTAN BENZOATE [Suspect]
     Active Substance: RIZATRIPTAN BENZOATE
     Dosage: RIZATRIPTAN BENZOATE
     Route: 065
  459. RIZATRIPTAN BENZOATE [Suspect]
     Active Substance: RIZATRIPTAN BENZOATE
     Dosage: RIZATRIPTAN
     Route: 065
  460. RIZATRIPTAN BENZOATE [Suspect]
     Active Substance: RIZATRIPTAN BENZOATE
     Dosage: RIZATRIPTAN
     Route: 065
  461. RIZATRIPTAN BENZOATE [Suspect]
     Active Substance: RIZATRIPTAN BENZOATE
     Dosage: RIZATRIPTAN, 2 ADMINISTRATIONS GIVEN
     Route: 065
  462. RIZATRIPTAN BENZOATE [Suspect]
     Active Substance: RIZATRIPTAN BENZOATE
     Dosage: RIZATRIPTAN BENZOATE
     Route: 065
  463. RIZATRIPTAN BENZOATE [Suspect]
     Active Substance: RIZATRIPTAN BENZOATE
     Dosage: RIZATRIPTAN BENZOATE
     Route: 065
  464. RIZATRIPTAN BENZOATE [Suspect]
     Active Substance: RIZATRIPTAN BENZOATE
     Dosage: 2 ADMINISTRATIONS
     Route: 065
  465. RIZATRIPTAN BENZOATE [Suspect]
     Active Substance: RIZATRIPTAN BENZOATE
     Dosage: 2 ADMINISTRATIONS
     Route: 065
  466. RIZATRIPTAN BENZOATE [Suspect]
     Active Substance: RIZATRIPTAN BENZOATE
     Dosage: RIZATRIPTAN BENZOATE 3 ADMINISTRATIONS
     Route: 065
  467. RIZATRIPTAN BENZOATE [Suspect]
     Active Substance: RIZATRIPTAN BENZOATE
     Route: 065
  468. BOTULINUM TOXIN TYPE A [Suspect]
     Active Substance: BOTULINUM TOXIN TYPE A
     Indication: Product used for unknown indication
     Route: 065
  469. BOTULINUM TOXIN TYPE A [Suspect]
     Active Substance: BOTULINUM TOXIN TYPE A
     Dosage: POWDER FOR SOLUTION
     Route: 065
  470. BOTULINUM TOXIN TYPE A [Suspect]
     Active Substance: BOTULINUM TOXIN TYPE A
     Dosage: POWDER FOR ORAL SOLUTION
     Route: 065
  471. BOTULINUM TOXIN TYPE A [Suspect]
     Active Substance: BOTULINUM TOXIN TYPE A
     Dosage: POWDER FOR SOLUTION
     Route: 030
  472. BOTULINUM TOXIN TYPE A [Suspect]
     Active Substance: BOTULINUM TOXIN TYPE A
     Dosage: POWDER FOR SOLUTION
     Route: 065
  473. BOTULINUM TOXIN TYPE A [Suspect]
     Active Substance: BOTULINUM TOXIN TYPE A
     Route: 030
  474. BOTULINUM TOXIN TYPE A [Suspect]
     Active Substance: BOTULINUM TOXIN TYPE A
     Route: 065
  475. BOTULINUM TOXIN TYPE A [Suspect]
     Active Substance: BOTULINUM TOXIN TYPE A
     Dosage: POWDER FOR SOLUTION
     Route: 065
  476. BOTULINUM TOXIN TYPE A [Suspect]
     Active Substance: BOTULINUM TOXIN TYPE A
     Dosage: POWDER FOR SOLUTION
     Route: 065
  477. BOTULINUM TOXIN TYPE A [Suspect]
     Active Substance: BOTULINUM TOXIN TYPE A
     Dosage: POWDER FOR SOLUTION
     Route: 065
  478. BOTULINUM TOXIN TYPE A [Suspect]
     Active Substance: BOTULINUM TOXIN TYPE A
     Dosage: POWDER FOR SOLUTION
     Route: 065
  479. BOTULINUM TOXIN TYPE A [Suspect]
     Active Substance: BOTULINUM TOXIN TYPE A
     Dosage: POWDER FOR SOLUTION
     Route: 065
  480. BOTULINUM TOXIN TYPE A [Suspect]
     Active Substance: BOTULINUM TOXIN TYPE A
     Dosage: POWDER FOR SOLUTION
     Route: 065
  481. BOTULINUM TOXIN TYPE A [Suspect]
     Active Substance: BOTULINUM TOXIN TYPE A
     Dosage: POWDER FOR SOLUTION
     Route: 065
  482. BOTULINUM TOXIN TYPE A [Suspect]
     Active Substance: BOTULINUM TOXIN TYPE A
     Route: 065
  483. BOTULINUM TOXIN TYPE A [Suspect]
     Active Substance: BOTULINUM TOXIN TYPE A
     Dosage: POWDER FOR SOLUTION
     Route: 065
  484. BOTULINUM TOXIN TYPE A [Suspect]
     Active Substance: BOTULINUM TOXIN TYPE A
     Route: 065
  485. BOTULINUM TOXIN TYPE A [Suspect]
     Active Substance: BOTULINUM TOXIN TYPE A
     Route: 030
  486. BOTULINUM TOXIN TYPE A [Suspect]
     Active Substance: BOTULINUM TOXIN TYPE A
     Route: 065
  487. BOTULINUM TOXIN TYPE A [Suspect]
     Active Substance: BOTULINUM TOXIN TYPE A
     Route: 065
  488. BOTULINUM TOXIN TYPE A [Suspect]
     Active Substance: BOTULINUM TOXIN TYPE A
     Dosage: POWDER FOR SOLUTION
     Route: 065
  489. BOTULINUM TOXIN TYPE A [Suspect]
     Active Substance: BOTULINUM TOXIN TYPE A
     Dosage: 6 ADMINISTRATIONS
     Route: 065
  490. BOTULINUM TOXIN TYPE A [Suspect]
     Active Substance: BOTULINUM TOXIN TYPE A
     Dosage: POWDER FOR SOLUTION
     Route: 065
  491. BOTULINUM TOXIN TYPE A [Suspect]
     Active Substance: BOTULINUM TOXIN TYPE A
     Route: 065
  492. BOTULINUM TOXIN TYPE A [Suspect]
     Active Substance: BOTULINUM TOXIN TYPE A
     Dosage: POWDER FOR SOLUTION
     Route: 065
  493. BOTULINUM TOXIN TYPE A [Suspect]
     Active Substance: BOTULINUM TOXIN TYPE A
     Route: 065
  494. BOTULINUM TOXIN TYPE A [Suspect]
     Active Substance: BOTULINUM TOXIN TYPE A
     Dosage: 5 ADMINISTRATIONS
     Route: 065
  495. BOTULINUM TOXIN TYPE A [Suspect]
     Active Substance: BOTULINUM TOXIN TYPE A
     Route: 030
  496. BOTULINUM TOXIN TYPE A [Suspect]
     Active Substance: BOTULINUM TOXIN TYPE A
     Route: 065
  497. AMOXICILLIN [Suspect]
     Active Substance: AMOXICILLIN
     Indication: Product used for unknown indication
     Route: 065
  498. AMOXICILLIN [Suspect]
     Active Substance: AMOXICILLIN
     Route: 065
  499. AMOXICILLIN [Suspect]
     Active Substance: AMOXICILLIN
     Dosage: AMOXICILLIN TRIHYDRATE
     Route: 065
  500. AMOXICILLIN [Suspect]
     Active Substance: AMOXICILLIN
     Dosage: AMOXICILLIN
     Route: 065
  501. AMOXICILLIN [Suspect]
     Active Substance: AMOXICILLIN
     Dosage: AMOXICILLIN (3 ADMINISTRATION); AMOXICILLIN TRIHYDRATE
     Route: 065
  502. AMOXICILLIN [Suspect]
     Active Substance: AMOXICILLIN
     Route: 065
  503. AMOXICILLIN [Suspect]
     Active Substance: AMOXICILLIN
     Dosage: AMOXICILLIN TRIHYDRATE
     Route: 065
  504. AMOXICILLIN [Suspect]
     Active Substance: AMOXICILLIN
     Dosage: AMOXICILLIN TRIHYDRATE
     Route: 065
  505. AMOXICILLIN [Suspect]
     Active Substance: AMOXICILLIN
     Dosage: AMOXICILLIN
     Route: 065
  506. AMOXICILLIN [Suspect]
     Active Substance: AMOXICILLIN
     Dosage: AMOXICILLIN
     Route: 065
  507. AMOXICILLIN [Suspect]
     Active Substance: AMOXICILLIN
     Dosage: AMOXICILLIN TRIHYDRATE 2 ADMINISTRATIONS
     Route: 065
  508. AMOXICILLIN [Suspect]
     Active Substance: AMOXICILLIN
     Dosage: AMOXICILLIN TRIHYDRATE, 10 ADMINISTRATIONS
     Route: 065
  509. AMOXICILLIN [Suspect]
     Active Substance: AMOXICILLIN
     Dosage: AMOXICILLIN TRIHYDRATE
     Route: 065
  510. AMOXICILLIN [Suspect]
     Active Substance: AMOXICILLIN
     Dosage: AMOXICILLIN TRIHYDRATE,
     Route: 065
  511. AMOXICILLIN [Suspect]
     Active Substance: AMOXICILLIN
     Dosage: AMOXICILLIN TRIHYDRATE
     Route: 065
  512. AMOXICILLIN [Suspect]
     Active Substance: AMOXICILLIN
     Dosage: AMOXICILLIN TRIHYDRATE
     Route: 065
  513. AMOXICILLIN [Suspect]
     Active Substance: AMOXICILLIN
     Dosage: AMOXICILLIN SODIUM
     Route: 065
  514. AMOXICILLIN [Suspect]
     Active Substance: AMOXICILLIN
     Dosage: AMOXICILLIN SODIUM
     Route: 065
  515. AMOXICILLIN [Suspect]
     Active Substance: AMOXICILLIN
     Dosage: AMOXICILLIN SODIUM
     Route: 065
  516. AMOXICILLIN [Suspect]
     Active Substance: AMOXICILLIN
     Dosage: AMOXICILLIN SODIUM
     Route: 065
  517. AMOXICILLIN [Suspect]
     Active Substance: AMOXICILLIN
     Dosage: AMOXICILLIN SODIUM
     Route: 065
  518. AMOXICILLIN [Suspect]
     Active Substance: AMOXICILLIN
     Dosage: 3 EVERY 1 DAYS SANDOZ AMOXICILLIN
     Route: 065
  519. AMOXICILLIN [Suspect]
     Active Substance: AMOXICILLIN
     Dosage: SANDOZ AMOXICILLIN
     Route: 065
  520. AMOXICILLIN [Suspect]
     Active Substance: AMOXICILLIN
     Dosage: AMOXICILLIN TRIHYDRATE
     Route: 065
  521. METOCLOPRAMIDE [Suspect]
     Active Substance: METOCLOPRAMIDE
     Indication: Migraine
     Dosage: METOCLOPRAMIDE 5 ADMINISTRATIONS
     Route: 065
  522. METOCLOPRAMIDE [Suspect]
     Active Substance: METOCLOPRAMIDE
     Route: 065
  523. METOCLOPRAMIDE [Suspect]
     Active Substance: METOCLOPRAMIDE
     Dosage: METOCLOPRAMIDE HYDROCHLORIDE
     Route: 065
  524. METOCLOPRAMIDE [Suspect]
     Active Substance: METOCLOPRAMIDE
     Dosage: METOCLOPRAMIDE HYDROCHLORIDE
     Route: 065
  525. METOCLOPRAMIDE [Suspect]
     Active Substance: METOCLOPRAMIDE
     Dosage: METOCLOPRAMIDE, 2 ADMINISTRATIONS
     Route: 065
  526. METOCLOPRAMIDE [Suspect]
     Active Substance: METOCLOPRAMIDE
     Route: 065
  527. METOCLOPRAMIDE [Suspect]
     Active Substance: METOCLOPRAMIDE
     Dosage: METOCLOPRAMIDE HYDROCHLORIDE
     Route: 065
  528. METOCLOPRAMIDE [Suspect]
     Active Substance: METOCLOPRAMIDE
     Dosage: 3 ADMINISTRATIONS
     Route: 065
  529. METOCLOPRAMIDE [Suspect]
     Active Substance: METOCLOPRAMIDE
     Dosage: METOCLOPRAMIDE HYDROCHLORIDE
     Route: 065
  530. METOCLOPRAMIDE [Suspect]
     Active Substance: METOCLOPRAMIDE
     Dosage: METOCLOPRAMIDE HYDROCHLORIDE
     Route: 065
  531. METOCLOPRAMIDE [Suspect]
     Active Substance: METOCLOPRAMIDE
     Dosage: METOCLOPRAMIDE HYDROCHLORIDE
     Route: 065
  532. METOCLOPRAMIDE [Suspect]
     Active Substance: METOCLOPRAMIDE
     Dosage: METOCLOPRAMIDE HYDROCHLORIDE, 2 ADMINISTRATIONS
     Route: 065
  533. METOCLOPRAMIDE [Suspect]
     Active Substance: METOCLOPRAMIDE
     Dosage: METOCLOPRAMIDE HYDROCHLORIDE
     Route: 065
  534. METOCLOPRAMIDE [Suspect]
     Active Substance: METOCLOPRAMIDE
     Dosage: NOT SPECIFIED
     Route: 065
  535. METOCLOPRAMIDE [Suspect]
     Active Substance: METOCLOPRAMIDE
     Dosage: 2 ADMINISTRATIONS
     Route: 065
  536. METOCLOPRAMIDE [Suspect]
     Active Substance: METOCLOPRAMIDE
     Route: 065
  537. TRAMADOL HYDROCHLORIDE [Suspect]
     Active Substance: TRAMADOL HYDROCHLORIDE
     Indication: Product used for unknown indication
     Dosage: APO-TRAMADOL
     Route: 065
  538. TRAMADOL HYDROCHLORIDE [Suspect]
     Active Substance: TRAMADOL HYDROCHLORIDE
     Dosage: APO-TRAMADOL
     Route: 048
  539. TRAMADOL HYDROCHLORIDE [Suspect]
     Active Substance: TRAMADOL HYDROCHLORIDE
     Dosage: APO-TRAMADOL
     Route: 065
  540. DEXAMETHASONE [Suspect]
     Active Substance: DEXAMETHASONE
     Indication: Migraine
     Route: 065
  541. DEXAMETHASONE [Suspect]
     Active Substance: DEXAMETHASONE
     Route: 048
  542. DEXAMETHASONE [Suspect]
     Active Substance: DEXAMETHASONE
     Route: 065
  543. DEXAMETHASONE [Suspect]
     Active Substance: DEXAMETHASONE
     Route: 065
  544. DEXAMETHASONE [Suspect]
     Active Substance: DEXAMETHASONE
     Route: 065
  545. DEXAMETHASONE [Suspect]
     Active Substance: DEXAMETHASONE
     Route: 065
  546. DEXAMETHASONE [Suspect]
     Active Substance: DEXAMETHASONE
     Dosage: DEXAMETHASONE SODIUM PHOSPHATE
     Route: 065
  547. DEXAMETHASONE [Suspect]
     Active Substance: DEXAMETHASONE
     Route: 065
  548. DEXAMETHASONE [Suspect]
     Active Substance: DEXAMETHASONE
     Dosage: DEXAMETHASONE SODIUM PHOSPHATE
     Route: 065
  549. DEXAMETHASONE [Suspect]
     Active Substance: DEXAMETHASONE
     Dosage: DEXAMETHASONE SODIUM PHOSPHATE
     Route: 065
  550. DEXAMETHASONE [Suspect]
     Active Substance: DEXAMETHASONE
     Dosage: DEXAMETHASONE SODIUM PHOSPHATE
     Route: 048
  551. DEXAMETHASONE [Suspect]
     Active Substance: DEXAMETHASONE
     Dosage: 2 ADMINISTRATIONS, DEXAMETHASONE SODIUM PHOSPHATE
     Route: 048
  552. DEXAMETHASONE [Suspect]
     Active Substance: DEXAMETHASONE
     Dosage: DEXAMETHASONE SODIUM PHOSPHATE
     Route: 048
  553. DEXAMETHASONE [Suspect]
     Active Substance: DEXAMETHASONE
     Dosage: DEXAMETHASONE SODIUM PHOSPHATE
     Route: 048
  554. ZOLMITRIPTAN [Suspect]
     Active Substance: ZOLMITRIPTAN
     Indication: Migraine
     Route: 065
  555. ZOLMITRIPTAN [Suspect]
     Active Substance: ZOLMITRIPTAN
     Route: 065
  556. ZOLMITRIPTAN [Suspect]
     Active Substance: ZOLMITRIPTAN
     Route: 065
  557. ZOLMITRIPTAN [Suspect]
     Active Substance: ZOLMITRIPTAN
     Route: 065
  558. ZOLMITRIPTAN [Suspect]
     Active Substance: ZOLMITRIPTAN
     Route: 065
  559. ZOLMITRIPTAN [Suspect]
     Active Substance: ZOLMITRIPTAN
     Dosage: NOT SPECIFIED
     Route: 065
  560. ZOLMITRIPTAN [Suspect]
     Active Substance: ZOLMITRIPTAN
     Dosage: NOT SPECIFIED
     Route: 048
  561. ZOLMITRIPTAN [Suspect]
     Active Substance: ZOLMITRIPTAN
     Route: 065
  562. SCOPOLAMINE [Suspect]
     Active Substance: SCOPOLAMINE
     Indication: Migraine
     Route: 065
  563. SCOPOLAMINE [Suspect]
     Active Substance: SCOPOLAMINE
     Dosage: HYOSCINE BUTYLBROMIDE
     Route: 065
  564. SCOPOLAMINE [Suspect]
     Active Substance: SCOPOLAMINE
     Dosage: 2 ADMINISTRATIONS, HYOSCINE BUTYLBROMIDE
     Route: 065
  565. SCOPOLAMINE [Suspect]
     Active Substance: SCOPOLAMINE
     Dosage: HYOSCINE BUTYLBROMIDE
     Route: 065
  566. SCOPOLAMINE [Suspect]
     Active Substance: SCOPOLAMINE
     Dosage: HYOSCINE BUTYLBROMIDE
     Route: 065
  567. SCOPOLAMINE [Suspect]
     Active Substance: SCOPOLAMINE
     Dosage: HYOSCINE BUTYLBROMIDE
     Route: 065
  568. SCOPOLAMINE [Suspect]
     Active Substance: SCOPOLAMINE
     Dosage: HYOSCINE BUTYLBROMIDE
     Route: 065
  569. SCOPOLAMINE [Suspect]
     Active Substance: SCOPOLAMINE
     Dosage: HYOSCINE
     Route: 065
  570. SCOPOLAMINE [Suspect]
     Active Substance: SCOPOLAMINE
     Dosage: HYOSCINE
     Route: 065
  571. SCOPOLAMINE [Suspect]
     Active Substance: SCOPOLAMINE
     Dosage: HYOSCINE BUTYLBROMIDE
     Route: 065
  572. SCOPOLAMINE [Suspect]
     Active Substance: SCOPOLAMINE
     Dosage: HYOSCINE HYDROBROMIDE TRIHYDRATE
     Route: 065
  573. ACETAMINOPHEN\BUTYLSCOPOLAMINE BROMIDE [Suspect]
     Active Substance: ACETAMINOPHEN\BUTYLSCOPOLAMINE BROMIDE
     Indication: Migraine
     Dosage: ACETAMINOPHEN/HYOSCINE BUTYLBROMIDE
     Route: 065
  574. ACETAMINOPHEN\BUTYLSCOPOLAMINE BROMIDE [Suspect]
     Active Substance: ACETAMINOPHEN\BUTYLSCOPOLAMINE BROMIDE
     Route: 065
  575. INDOMETHACIN [Suspect]
     Active Substance: INDOMETHACIN
     Indication: Migraine
     Dosage: 26 ADMINISTRATIONS
     Route: 054
  576. INDOMETHACIN [Suspect]
     Active Substance: INDOMETHACIN
     Route: 054
  577. INDOMETHACIN [Suspect]
     Active Substance: INDOMETHACIN
     Route: 054
  578. INDOMETHACIN [Suspect]
     Active Substance: INDOMETHACIN
     Route: 054
  579. INDOMETHACIN [Suspect]
     Active Substance: INDOMETHACIN
     Route: 054
  580. INDOMETHACIN [Suspect]
     Active Substance: INDOMETHACIN
     Route: 054
  581. INDOMETHACIN [Suspect]
     Active Substance: INDOMETHACIN
     Route: 054
  582. INDOMETHACIN [Suspect]
     Active Substance: INDOMETHACIN
     Route: 054
  583. INDOMETHACIN [Suspect]
     Active Substance: INDOMETHACIN
     Route: 054
  584. INDOMETHACIN [Suspect]
     Active Substance: INDOMETHACIN
     Route: 054
  585. INDOMETHACIN [Suspect]
     Active Substance: INDOMETHACIN
     Route: 054
  586. INDOMETHACIN [Suspect]
     Active Substance: INDOMETHACIN
     Route: 054
  587. INDOMETHACIN [Suspect]
     Active Substance: INDOMETHACIN
     Route: 054
  588. INDOMETHACIN [Suspect]
     Active Substance: INDOMETHACIN
     Route: 065
  589. INDOMETHACIN [Suspect]
     Active Substance: INDOMETHACIN
     Route: 054
  590. INDOMETHACIN [Suspect]
     Active Substance: INDOMETHACIN
     Dosage: NOT SPECIFIED
     Route: 054
  591. INDOMETHACIN [Suspect]
     Active Substance: INDOMETHACIN
     Route: 065
  592. INDOMETHACIN [Suspect]
     Active Substance: INDOMETHACIN
     Route: 054
  593. INDOMETHACIN [Suspect]
     Active Substance: INDOMETHACIN
     Route: 054
  594. INDOMETHACIN [Suspect]
     Active Substance: INDOMETHACIN
     Route: 054
  595. INDOMETHACIN [Suspect]
     Active Substance: INDOMETHACIN
     Route: 065
  596. INDOMETHACIN [Suspect]
     Active Substance: INDOMETHACIN
     Route: 065
  597. INDOMETHACIN [Suspect]
     Active Substance: INDOMETHACIN
     Dosage: NOT SPECIFIED
     Route: 054
  598. INDOMETHACIN [Suspect]
     Active Substance: INDOMETHACIN
     Dosage: INDOMETHACIN
     Route: 054
  599. INDOMETHACIN [Suspect]
     Active Substance: INDOMETHACIN
     Dosage: INDOMETHACIN
     Route: 054
  600. INDOMETHACIN [Suspect]
     Active Substance: INDOMETHACIN
     Dosage: INDOMETHACIN
     Route: 054
  601. INDOMETHACIN [Suspect]
     Active Substance: INDOMETHACIN
     Dosage: INDOMETHACIN
     Route: 054
  602. INDOMETHACIN [Suspect]
     Active Substance: INDOMETHACIN
     Dosage: INDOMETHACIN
     Route: 054
  603. INDOMETHACIN [Suspect]
     Active Substance: INDOMETHACIN
     Dosage: INDOMETHACIN
     Route: 054
  604. INDOMETHACIN [Suspect]
     Active Substance: INDOMETHACIN
     Dosage: INDOMETHACIN
     Route: 054
  605. INDOMETHACIN [Suspect]
     Active Substance: INDOMETHACIN
     Dosage: INDOMETHACIN
     Route: 054
  606. INDOMETHACIN [Suspect]
     Active Substance: INDOMETHACIN
     Dosage: INDOMETHACIN
     Route: 054
  607. INDOMETHACIN [Suspect]
     Active Substance: INDOMETHACIN
     Dosage: INDOMETHACIN
     Route: 054
  608. INDOMETHACIN [Suspect]
     Active Substance: INDOMETHACIN
     Dosage: INDOMETHACIN
     Route: 054
  609. INDOMETHACIN [Suspect]
     Active Substance: INDOMETHACIN
     Dosage: INDOMETHACIN
     Route: 054
  610. INDOMETHACIN [Suspect]
     Active Substance: INDOMETHACIN
     Dosage: INDOMETHACIN
     Route: 054
  611. INDOMETHACIN [Suspect]
     Active Substance: INDOMETHACIN
     Dosage: INDOMETHACIN
     Route: 054
  612. INDOMETHACIN [Suspect]
     Active Substance: INDOMETHACIN
     Dosage: INDOMETHACIN
     Route: 054
  613. INDOMETHACIN [Suspect]
     Active Substance: INDOMETHACIN
     Route: 054
  614. INDOMETHACIN [Suspect]
     Active Substance: INDOMETHACIN
     Route: 054
  615. INDOMETHACIN [Suspect]
     Active Substance: INDOMETHACIN
     Route: 054
  616. INDOMETHACIN [Suspect]
     Active Substance: INDOMETHACIN
     Route: 054
  617. INDOMETHACIN [Suspect]
     Active Substance: INDOMETHACIN
     Route: 054
  618. INDOMETHACIN [Suspect]
     Active Substance: INDOMETHACIN
     Route: 054
  619. INDOMETHACIN [Suspect]
     Active Substance: INDOMETHACIN
     Route: 065
  620. INDOMETHACIN [Suspect]
     Active Substance: INDOMETHACIN
     Route: 054
  621. INDOMETHACIN [Suspect]
     Active Substance: INDOMETHACIN
     Route: 054
  622. INDOMETHACIN [Suspect]
     Active Substance: INDOMETHACIN
     Route: 054
  623. INDOMETHACIN [Suspect]
     Active Substance: INDOMETHACIN
     Route: 054
  624. INDOMETHACIN [Suspect]
     Active Substance: INDOMETHACIN
     Route: 054
  625. INDOMETHACIN [Suspect]
     Active Substance: INDOMETHACIN
     Route: 054
  626. RABEPRAZOLE SODIUM [Suspect]
     Active Substance: RABEPRAZOLE SODIUM
     Indication: Migraine
     Route: 065
  627. RABEPRAZOLE SODIUM [Suspect]
     Active Substance: RABEPRAZOLE SODIUM
     Route: 048
  628. RABEPRAZOLE SODIUM [Suspect]
     Active Substance: RABEPRAZOLE SODIUM
     Route: 048
  629. RABEPRAZOLE SODIUM [Suspect]
     Active Substance: RABEPRAZOLE SODIUM
     Route: 048
  630. RABEPRAZOLE SODIUM [Suspect]
     Active Substance: RABEPRAZOLE SODIUM
     Route: 048
  631. RABEPRAZOLE SODIUM [Suspect]
     Active Substance: RABEPRAZOLE SODIUM
     Route: 048
  632. RABEPRAZOLE SODIUM [Suspect]
     Active Substance: RABEPRAZOLE SODIUM
     Route: 048
  633. RABEPRAZOLE SODIUM [Suspect]
     Active Substance: RABEPRAZOLE SODIUM
     Dosage: 7ADMINISTRATIONS
     Route: 048
  634. RABEPRAZOLE SODIUM [Suspect]
     Active Substance: RABEPRAZOLE SODIUM
     Route: 048
  635. RABEPRAZOLE SODIUM [Suspect]
     Active Substance: RABEPRAZOLE SODIUM
     Route: 048
  636. RABEPRAZOLE SODIUM [Suspect]
     Active Substance: RABEPRAZOLE SODIUM
     Route: 048
  637. RABEPRAZOLE SODIUM [Suspect]
     Active Substance: RABEPRAZOLE SODIUM
     Route: 048
  638. RABEPRAZOLE SODIUM [Suspect]
     Active Substance: RABEPRAZOLE SODIUM
     Route: 048
  639. RABEPRAZOLE SODIUM [Suspect]
     Active Substance: RABEPRAZOLE SODIUM
     Route: 048
  640. RABEPRAZOLE SODIUM [Suspect]
     Active Substance: RABEPRAZOLE SODIUM
     Route: 048
  641. RABEPRAZOLE SODIUM [Suspect]
     Active Substance: RABEPRAZOLE SODIUM
     Route: 048
  642. RABEPRAZOLE SODIUM [Suspect]
     Active Substance: RABEPRAZOLE SODIUM
     Route: 048
  643. RABEPRAZOLE SODIUM [Suspect]
     Active Substance: RABEPRAZOLE SODIUM
     Route: 048
  644. CLOTRIMAZOLE\FLUCONAZOLE [Suspect]
     Active Substance: CLOTRIMAZOLE\FLUCONAZOLE
     Indication: Product used for unknown indication
     Route: 065
  645. CLOTRIMAZOLE\FLUCONAZOLE [Suspect]
     Active Substance: CLOTRIMAZOLE\FLUCONAZOLE
     Route: 065
  646. CLOTRIMAZOLE\FLUCONAZOLE [Suspect]
     Active Substance: CLOTRIMAZOLE\FLUCONAZOLE
     Route: 065
  647. CLOTRIMAZOLE\FLUCONAZOLE [Suspect]
     Active Substance: CLOTRIMAZOLE\FLUCONAZOLE
     Dosage: NOT SPECIFIED
     Route: 065
  648. ESOMEPRAZOLE [Suspect]
     Active Substance: ESOMEPRAZOLE
     Indication: Migraine
     Dosage: ESOMEPRAZOLE
     Route: 065
  649. ESOMEPRAZOLE [Suspect]
     Active Substance: ESOMEPRAZOLE
     Dosage: ESOMEPRAZOLE MAGNESIUM TRIHYDRATE
     Route: 065
  650. ESOMEPRAZOLE [Suspect]
     Active Substance: ESOMEPRAZOLE
     Dosage: ESOMEPRAZOLE MAGNESIUM TRIHYDRATE
     Route: 048
  651. ESOMEPRAZOLE [Suspect]
     Active Substance: ESOMEPRAZOLE
     Dosage: ESOMEPRAZOLE MAGNESIUM TRIHYDRATE
     Route: 065
  652. ESOMEPRAZOLE [Suspect]
     Active Substance: ESOMEPRAZOLE
     Route: 065
  653. ESOMEPRAZOLE [Suspect]
     Active Substance: ESOMEPRAZOLE
     Route: 065
  654. ESOMEPRAZOLE [Suspect]
     Active Substance: ESOMEPRAZOLE
     Route: 065
  655. ESOMEPRAZOLE [Suspect]
     Active Substance: ESOMEPRAZOLE
     Route: 048
  656. ESOMEPRAZOLE [Suspect]
     Active Substance: ESOMEPRAZOLE
     Route: 065
  657. ACETAMINOPHEN\DIPHENHYDRAMINE HYDROCHLORIDE [Suspect]
     Active Substance: ACETAMINOPHEN\DIPHENHYDRAMINE HYDROCHLORIDE
     Indication: Product used for unknown indication
     Dosage: ACETAMINOPHEN;DIPHENHYDRAMINE
     Route: 065
  658. METRONIDAZOLE [Suspect]
     Active Substance: METRONIDAZOLE
     Indication: Migraine
     Dosage: 2 ADMINISTRATIONS.
     Route: 065
  659. METRONIDAZOLE [Suspect]
     Active Substance: METRONIDAZOLE
     Route: 065
  660. METRONIDAZOLE [Suspect]
     Active Substance: METRONIDAZOLE
     Dosage: NOT SPECIFIED
     Route: 065
  661. CLOTRIMAZOLE [Suspect]
     Active Substance: CLOTRIMAZOLE
     Indication: Product used for unknown indication
     Dosage: 1 ADMINISTRATION GIVEN?NOT SPECIFIED
     Route: 065
  662. CLOTRIMAZOLE [Suspect]
     Active Substance: CLOTRIMAZOLE
     Route: 065
  663. MAXALT [Suspect]
     Active Substance: RIZATRIPTAN BENZOATE
     Indication: Migraine
     Route: 065
  664. MAXALT [Suspect]
     Active Substance: RIZATRIPTAN BENZOATE
     Route: 065
  665. MAXALT [Suspect]
     Active Substance: RIZATRIPTAN BENZOATE
     Route: 065
  666. MAXALT [Suspect]
     Active Substance: RIZATRIPTAN BENZOATE
     Route: 065
  667. MAXALT [Suspect]
     Active Substance: RIZATRIPTAN BENZOATE
     Dosage: 3 ADMINISTRATIONS
     Route: 065
  668. MAXALT [Suspect]
     Active Substance: RIZATRIPTAN BENZOATE
     Route: 065
  669. MAXALT [Suspect]
     Active Substance: RIZATRIPTAN BENZOATE
     Route: 065
  670. SCOPOLAMINE HYDROBROMIDE [Suspect]
     Active Substance: SCOPOLAMINE HYDROBROMIDE
     Indication: Migraine
     Route: 065
  671. SCOPOLAMINE HYDROBROMIDE [Suspect]
     Active Substance: SCOPOLAMINE HYDROBROMIDE
     Route: 065
  672. SCOPOLAMINE HYDROBROMIDE [Suspect]
     Active Substance: SCOPOLAMINE HYDROBROMIDE
     Route: 065
  673. SCOPOLAMINE HYDROBROMIDE [Suspect]
     Active Substance: SCOPOLAMINE HYDROBROMIDE
     Route: 065
  674. CYMBALTA [Suspect]
     Active Substance: DULOXETINE HYDROCHLORIDE
     Indication: Product used for unknown indication
     Route: 065
  675. CYMBALTA [Suspect]
     Active Substance: DULOXETINE HYDROCHLORIDE
     Route: 065
  676. CYMBALTA [Suspect]
     Active Substance: DULOXETINE HYDROCHLORIDE
     Route: 065
  677. CYMBALTA [Suspect]
     Active Substance: DULOXETINE HYDROCHLORIDE
     Route: 065
  678. CYMBALTA [Suspect]
     Active Substance: DULOXETINE HYDROCHLORIDE
     Route: 065
  679. CYMBALTA [Suspect]
     Active Substance: DULOXETINE HYDROCHLORIDE
     Route: 065
  680. CYMBALTA [Suspect]
     Active Substance: DULOXETINE HYDROCHLORIDE
     Route: 065
  681. CYMBALTA [Suspect]
     Active Substance: DULOXETINE HYDROCHLORIDE
     Route: 065
  682. CYMBALTA [Suspect]
     Active Substance: DULOXETINE HYDROCHLORIDE
     Route: 065
  683. CYMBALTA [Suspect]
     Active Substance: DULOXETINE HYDROCHLORIDE
     Route: 065
  684. CYMBALTA [Suspect]
     Active Substance: DULOXETINE HYDROCHLORIDE
     Route: 065
  685. CYMBALTA [Suspect]
     Active Substance: DULOXETINE HYDROCHLORIDE
     Route: 065
  686. CYMBALTA [Suspect]
     Active Substance: DULOXETINE HYDROCHLORIDE
     Route: 065
  687. CYMBALTA [Suspect]
     Active Substance: DULOXETINE HYDROCHLORIDE
     Route: 065
  688. CYMBALTA [Suspect]
     Active Substance: DULOXETINE HYDROCHLORIDE
     Route: 065
  689. CYMBALTA [Suspect]
     Active Substance: DULOXETINE HYDROCHLORIDE
     Dosage: NOT SPECIFIED
     Route: 065
  690. CYMBALTA [Suspect]
     Active Substance: DULOXETINE HYDROCHLORIDE
     Dosage: NOT SPECIFIED
     Route: 065
  691. CYMBALTA [Suspect]
     Active Substance: DULOXETINE HYDROCHLORIDE
     Dosage: NOT SPECIFIED
     Route: 065
  692. CYMBALTA [Suspect]
     Active Substance: DULOXETINE HYDROCHLORIDE
     Dosage: NOT SPECIFIED
     Route: 065
  693. CYMBALTA [Suspect]
     Active Substance: DULOXETINE HYDROCHLORIDE
     Dosage: NOT SPECIFIED
     Route: 065
  694. LISINOPRIL [Suspect]
     Active Substance: LISINOPRIL
     Indication: Product used for unknown indication
     Route: 065
  695. LISINOPRIL [Suspect]
     Active Substance: LISINOPRIL
     Route: 065
  696. LISINOPRIL [Suspect]
     Active Substance: LISINOPRIL
     Route: 065
  697. LISINOPRIL [Suspect]
     Active Substance: LISINOPRIL
     Route: 065
  698. LISINOPRIL [Suspect]
     Active Substance: LISINOPRIL
     Route: 065
  699. LISINOPRIL [Suspect]
     Active Substance: LISINOPRIL
     Route: 065
  700. LISINOPRIL [Suspect]
     Active Substance: LISINOPRIL
     Route: 065
  701. AZITHROMYCIN ANHYDROUS [Suspect]
     Active Substance: AZITHROMYCIN ANHYDROUS
     Indication: Migraine
     Route: 065
  702. AZITHROMYCIN ANHYDROUS [Suspect]
     Active Substance: AZITHROMYCIN ANHYDROUS
     Route: 065
  703. AZITHROMYCIN ANHYDROUS [Suspect]
     Active Substance: AZITHROMYCIN ANHYDROUS
     Route: 065
  704. AZITHROMYCIN ANHYDROUS [Suspect]
     Active Substance: AZITHROMYCIN ANHYDROUS
     Route: 065
  705. AZITHROMYCIN ANHYDROUS [Suspect]
     Active Substance: AZITHROMYCIN ANHYDROUS
     Route: 065
  706. AZITHROMYCIN ANHYDROUS [Suspect]
     Active Substance: AZITHROMYCIN ANHYDROUS
     Route: 065
  707. AZITHROMYCIN ANHYDROUS [Suspect]
     Active Substance: AZITHROMYCIN ANHYDROUS
     Route: 065
  708. AZITHROMYCIN ANHYDROUS [Suspect]
     Active Substance: AZITHROMYCIN ANHYDROUS
     Route: 065
  709. DULOXETINE [Suspect]
     Active Substance: DULOXETINE
     Indication: Migraine
     Dosage: CAPSULE, DELAYED RELEASE
     Route: 065
  710. DULOXETINE [Suspect]
     Active Substance: DULOXETINE
     Dosage: CAPSULE, DELAYED RELEASE
     Route: 065
  711. DULOXETINE [Suspect]
     Active Substance: DULOXETINE
     Route: 065
  712. PREDNISONE [Suspect]
     Active Substance: PREDNISONE
     Indication: Product used for unknown indication
     Dosage: PREDNISONE
     Route: 065
  713. PREDNISONE [Suspect]
     Active Substance: PREDNISONE
     Dosage: NOT SPECIFIED
     Route: 065
  714. PREDNISONE [Suspect]
     Active Substance: PREDNISONE
     Dosage: PREDNISONE
     Route: 065
  715. PREDNISONE [Suspect]
     Active Substance: PREDNISONE
     Route: 065
  716. ACETAMINOPHEN\TRAMADOL HYDROCHLORIDE [Suspect]
     Active Substance: ACETAMINOPHEN\TRAMADOL HYDROCHLORIDE
     Indication: Product used for unknown indication
     Dosage: ACETAMINOPHEN;TRAMADOL HYDROCHLORIDE
     Route: 065
  717. ACETAMINOPHEN\TRAMADOL HYDROCHLORIDE [Suspect]
     Active Substance: ACETAMINOPHEN\TRAMADOL HYDROCHLORIDE
     Route: 065
  718. ACETAMINOPHEN\METOCLOPRAMIDE HYDROCHLORIDE [Suspect]
     Active Substance: ACETAMINOPHEN\METOCLOPRAMIDE HYDROCHLORIDE
     Indication: Migraine
     Route: 065
  719. ACETAMINOPHEN\CODEINE PHOSPHATE [Suspect]
     Active Substance: ACETAMINOPHEN\CODEINE PHOSPHATE
     Indication: Product used for unknown indication
     Route: 065
  720. ACETAMINOPHEN\CODEINE PHOSPHATE [Suspect]
     Active Substance: ACETAMINOPHEN\CODEINE PHOSPHATE
     Route: 065
  721. ALBUTEROL [Suspect]
     Active Substance: ALBUTEROL
     Indication: Product used for unknown indication
     Route: 065
  722. ALBUTEROL [Suspect]
     Active Substance: ALBUTEROL
     Dosage: SALBUTAMOL SULFATE
     Route: 065
  723. ALBUTEROL [Suspect]
     Active Substance: ALBUTEROL
     Dosage: SALBUTAMOL HFA (2 ADMINISTRATION)
     Route: 065
  724. ALBUTEROL [Suspect]
     Active Substance: ALBUTEROL
     Dosage: METERED-DOSE (AEROSOL)
     Route: 065
  725. ALBUTEROL [Suspect]
     Active Substance: ALBUTEROL
     Route: 065
  726. ALBUTEROL [Suspect]
     Active Substance: ALBUTEROL
     Dosage: METERED-DOSE?(AEROSOL)
     Route: 065
  727. ALBUTEROL [Suspect]
     Active Substance: ALBUTEROL
     Dosage: METERED-DOSE (AEROSOL)
     Route: 065
  728. INDOMETHACIN [Suspect]
     Active Substance: INDOMETHACIN
     Indication: Migraine
     Route: 054
  729. INDOMETHACIN [Suspect]
     Active Substance: INDOMETHACIN
     Dosage: 7 ADMINISTRATIONS
     Route: 054
  730. INDOMETHACIN [Suspect]
     Active Substance: INDOMETHACIN
     Route: 054
  731. INDOMETHACIN [Suspect]
     Active Substance: INDOMETHACIN
     Route: 054
  732. INDOMETHACIN [Suspect]
     Active Substance: INDOMETHACIN
     Route: 054
  733. INDOMETHACIN [Suspect]
     Active Substance: INDOMETHACIN
     Route: 054
  734. INDOMETHACIN [Suspect]
     Active Substance: INDOMETHACIN
     Route: 054
  735. INDOMETHACIN [Suspect]
     Active Substance: INDOMETHACIN
     Route: 054
  736. INDOMETHACIN [Suspect]
     Active Substance: INDOMETHACIN
     Route: 054
  737. INDOMETHACIN [Suspect]
     Active Substance: INDOMETHACIN
     Route: 054
  738. INDOMETHACIN [Suspect]
     Active Substance: INDOMETHACIN
     Route: 054
  739. INDOMETHACIN [Suspect]
     Active Substance: INDOMETHACIN
     Route: 054
  740. INDOMETHACIN [Suspect]
     Active Substance: INDOMETHACIN
     Route: 054
  741. INDOMETHACIN [Suspect]
     Active Substance: INDOMETHACIN
     Route: 054
  742. INDOMETHACIN [Suspect]
     Active Substance: INDOMETHACIN
     Route: 054
  743. INDOMETHACIN [Suspect]
     Active Substance: INDOMETHACIN
     Route: 054
  744. INDOMETHACIN [Suspect]
     Active Substance: INDOMETHACIN
     Route: 054
  745. INDOMETHACIN [Suspect]
     Active Substance: INDOMETHACIN
     Route: 054
  746. INDOMETHACIN [Suspect]
     Active Substance: INDOMETHACIN
     Route: 054
  747. INDOMETHACIN [Suspect]
     Active Substance: INDOMETHACIN
     Route: 054
  748. INDOMETHACIN [Suspect]
     Active Substance: INDOMETHACIN
     Route: 054
  749. INDOMETHACIN [Suspect]
     Active Substance: INDOMETHACIN
     Route: 054
  750. INDOMETHACIN [Suspect]
     Active Substance: INDOMETHACIN
     Route: 054
  751. INDOMETHACIN [Suspect]
     Active Substance: INDOMETHACIN
     Route: 054
  752. INDOMETHACIN [Suspect]
     Active Substance: INDOMETHACIN
     Route: 054
  753. INDOMETHACIN [Suspect]
     Active Substance: INDOMETHACIN
     Route: 054
  754. INDOMETHACIN [Suspect]
     Active Substance: INDOMETHACIN
     Route: 054
  755. INDOMETHACIN [Suspect]
     Active Substance: INDOMETHACIN
     Route: 054
  756. INDOMETHACIN [Suspect]
     Active Substance: INDOMETHACIN
     Route: 065
  757. INDOMETHACIN [Suspect]
     Active Substance: INDOMETHACIN
     Route: 054
  758. INDOMETHACIN [Suspect]
     Active Substance: INDOMETHACIN
     Route: 054
  759. INDOMETHACIN [Suspect]
     Active Substance: INDOMETHACIN
     Route: 054
  760. INDOMETHACIN [Suspect]
     Active Substance: INDOMETHACIN
     Route: 054
  761. INDOMETHACIN [Suspect]
     Active Substance: INDOMETHACIN
     Route: 054
  762. INDOMETHACIN [Suspect]
     Active Substance: INDOMETHACIN
     Route: 054
  763. INDOMETHACIN [Suspect]
     Active Substance: INDOMETHACIN
     Route: 054
  764. INDOMETHACIN [Suspect]
     Active Substance: INDOMETHACIN
     Route: 054
  765. INDOMETHACIN [Suspect]
     Active Substance: INDOMETHACIN
     Route: 054
  766. INDOMETHACIN [Suspect]
     Active Substance: INDOMETHACIN
     Route: 054
  767. INDOMETHACIN [Suspect]
     Active Substance: INDOMETHACIN
     Route: 054
  768. INDOMETHACIN [Suspect]
     Active Substance: INDOMETHACIN
     Route: 054
  769. INDOMETHACIN [Suspect]
     Active Substance: INDOMETHACIN
     Route: 054
  770. INDOMETHACIN [Suspect]
     Active Substance: INDOMETHACIN
     Route: 054
  771. INDOMETHACIN [Suspect]
     Active Substance: INDOMETHACIN
     Route: 054
  772. INDOMETHACIN [Suspect]
     Active Substance: INDOMETHACIN
     Route: 054
  773. INDOMETHACIN [Suspect]
     Active Substance: INDOMETHACIN
     Route: 054
  774. INDOMETHACIN [Suspect]
     Active Substance: INDOMETHACIN
     Dosage: 7 ADMINISTRATIONS
     Route: 054
  775. INDOMETHACIN [Suspect]
     Active Substance: INDOMETHACIN
     Route: 054
  776. INDOMETHACIN [Suspect]
     Active Substance: INDOMETHACIN
     Route: 054
  777. INDOMETHACIN [Suspect]
     Active Substance: INDOMETHACIN
     Dosage: 9 ADMINISTRATIONS
     Route: 054
  778. INDOMETHACIN [Suspect]
     Active Substance: INDOMETHACIN
     Route: 054
  779. INDOMETHACIN [Suspect]
     Active Substance: INDOMETHACIN
     Route: 054
  780. INDOMETHACIN [Suspect]
     Active Substance: INDOMETHACIN
     Route: 054
  781. INDOMETHACIN [Suspect]
     Active Substance: INDOMETHACIN
     Route: 054
  782. INDOMETHACIN [Suspect]
     Active Substance: INDOMETHACIN
     Route: 054
  783. INDOMETHACIN [Suspect]
     Active Substance: INDOMETHACIN
     Route: 065
  784. INDOMETHACIN [Suspect]
     Active Substance: INDOMETHACIN
     Route: 054
  785. INDOMETHACIN [Suspect]
     Active Substance: INDOMETHACIN
     Route: 054
  786. INDOMETHACIN [Suspect]
     Active Substance: INDOMETHACIN
     Dosage: 3 ADMINISTRATIONS
     Route: 054
  787. INDOMETHACIN [Suspect]
     Active Substance: INDOMETHACIN
     Route: 054
  788. FLUCONAZOLE [Suspect]
     Active Substance: FLUCONAZOLE
     Indication: Product used for unknown indication
     Route: 065
  789. FLUOXETINE [Suspect]
     Active Substance: FLUOXETINE HYDROCHLORIDE
     Indication: Product used for unknown indication
     Dosage: NOT SPECIFIED
     Route: 065
  790. FLUOXETINE [Suspect]
     Active Substance: FLUOXETINE HYDROCHLORIDE
     Route: 065
  791. FLUOXETINE [Suspect]
     Active Substance: FLUOXETINE HYDROCHLORIDE
     Dosage: FLUOXETINE HYDROCHLORIDE
     Route: 065
  792. FLUOXETINE [Suspect]
     Active Substance: FLUOXETINE HYDROCHLORIDE
     Dosage: FLUOXETINE HYDROCHLORIDE
     Route: 065
  793. ZESTRIL [Suspect]
     Active Substance: LISINOPRIL
     Indication: Product used for unknown indication
     Route: 048
  794. ZESTRIL [Suspect]
     Active Substance: LISINOPRIL
     Dosage: 2 ADMINISTRATIONS
     Route: 048
  795. ZESTRIL [Suspect]
     Active Substance: LISINOPRIL
     Route: 065
  796. ZESTRIL [Suspect]
     Active Substance: LISINOPRIL
     Route: 048
  797. SULFAMETHOXAZOLE\TRIMETHOPRIM [Suspect]
     Active Substance: SULFAMETHOXAZOLE\TRIMETHOPRIM
     Indication: Product used for unknown indication
     Route: 065
  798. TOPAMAX [Suspect]
     Active Substance: TOPIRAMATE
     Indication: Migraine
     Dosage: NOT SPECIFIED
     Route: 065
  799. TOPAMAX [Suspect]
     Active Substance: TOPIRAMATE
     Route: 065
  800. CIPRO [Suspect]
     Active Substance: CIPROFLOXACIN HYDROCHLORIDE
     Indication: Migraine
     Route: 065
  801. CIPRO [Suspect]
     Active Substance: CIPROFLOXACIN HYDROCHLORIDE
     Route: 065
  802. CIPRO [Suspect]
     Active Substance: CIPROFLOXACIN HYDROCHLORIDE
     Dosage: NOT SPECIFIED
     Route: 065
  803. NEXIUM [Suspect]
     Active Substance: ESOMEPRAZOLE MAGNESIUM
     Indication: Migraine
     Dosage: DELAYED RELEASE CAPSULE
     Route: 065
  804. ERENUMAB-AOOE [Suspect]
     Active Substance: ERENUMAB-AOOE
     Indication: Migraine
     Route: 065
  805. ASPIRIN\CAFFEINE\CODEINE [Suspect]
     Active Substance: ASPIRIN\CAFFEINE\CODEINE
     Indication: Migraine
     Route: 065
  806. VENLAFAXINE HYDROCHLORIDE [Suspect]
     Active Substance: VENLAFAXINE HYDROCHLORIDE
     Indication: Product used for unknown indication
     Dosage: 3 ADMINISTRATIONS
     Route: 065
  807. VENLAFAXINE HYDROCHLORIDE [Suspect]
     Active Substance: VENLAFAXINE HYDROCHLORIDE
     Dosage: 5 ADMINISTRATIONS
     Route: 065
  808. AZITHROMYCIN [Suspect]
     Active Substance: AZITHROMYCIN
     Indication: Product used for unknown indication
     Dosage: 4 ADMINISTRATIONS
     Route: 065
  809. AZITHROMYCIN [Suspect]
     Active Substance: AZITHROMYCIN
     Dosage: 4 ADMINISTRATIONS
     Route: 065
  810. AZITHROMYCIN [Suspect]
     Active Substance: AZITHROMYCIN
     Dosage: 7 ADMINISTRATIONS
     Route: 065
  811. ESOMEPRAZOLE MAGNESIUM [Suspect]
     Active Substance: ESOMEPRAZOLE MAGNESIUM
     Indication: Product used for unknown indication
     Route: 065
  812. ESOMEPRAZOLE MAGNESIUM [Suspect]
     Active Substance: ESOMEPRAZOLE MAGNESIUM
     Route: 065
  813. LANSOPRAZOLE [Suspect]
     Active Substance: LANSOPRAZOLE
     Indication: Migraine
     Dosage: 2 ADMINISTRATIONS
     Route: 065
  814. RABEPRAZOLE [Suspect]
     Active Substance: RABEPRAZOLE
     Indication: Migraine
     Dosage: 4 ADMINISTRATIONS
     Route: 065
  815. RABEPRAZOLE [Suspect]
     Active Substance: RABEPRAZOLE
     Dosage: 19 ADMINISTRATIONS
     Route: 065
  816. RABEPRAZOLE [Suspect]
     Active Substance: RABEPRAZOLE
     Dosage: 19 ADMINISTRATIONS
     Route: 065
  817. RABEPRAZOLE [Suspect]
     Active Substance: RABEPRAZOLE
     Dosage: 19 ADMINISTRATIONS
     Route: 065
  818. ZOPICLONE [Suspect]
     Active Substance: ZOPICLONE
     Indication: Migraine
     Route: 065
  819. PREDNISOLONE [Suspect]
     Active Substance: PREDNISOLONE
     Indication: Product used for unknown indication
     Route: 065
  820. MOMETASONE FUROATE [Suspect]
     Active Substance: MOMETASONE FUROATE
     Indication: Migraine
     Route: 065
  821. MOMETASONE FUROATE [Suspect]
     Active Substance: MOMETASONE FUROATE
     Route: 065
  822. MOMETASONE FUROATE [Suspect]
     Active Substance: MOMETASONE FUROATE
     Dosage: 3 ADMINISTRATIONS
     Route: 065
  823. MOMETASONE FUROATE [Suspect]
     Active Substance: MOMETASONE FUROATE
     Dosage: 5 ADMINISTRATIONS
     Route: 065
  824. MOMETASONE FUROATE [Suspect]
     Active Substance: MOMETASONE FUROATE
     Dosage: 3 ADMINISTRATIONS
     Route: 065
  825. MOMETASONE FUROATE [Suspect]
     Active Substance: MOMETASONE FUROATE
     Route: 065
  826. MOMETASONE FUROATE [Suspect]
     Active Substance: MOMETASONE FUROATE
     Dosage: 2 ADMINISTRATIONS
     Route: 065
  827. MOMETASONE FUROATE [Suspect]
     Active Substance: MOMETASONE FUROATE
     Dosage: 2 ADMINISTRATIONS
     Route: 065
  828. PEDIAPRED [Suspect]
     Active Substance: PREDNISOLONE SODIUM PHOSPHATE
     Indication: Product used for unknown indication
     Route: 065
  829. PREDNISONE [Suspect]
     Active Substance: PREDNISONE
     Indication: Product used for unknown indication
     Route: 065
  830. METOCLOPRAMIDE HYDROCHLORIDE [Suspect]
     Active Substance: METOCLOPRAMIDE HYDROCHLORIDE
     Indication: Product used for unknown indication
     Dosage: 2 ADMINISTRATION
     Route: 065
  831. CIPROFLOXACIN HYDROCHLORIDE\DEXAMETHASONE [Suspect]
     Active Substance: CIPROFLOXACIN HYDROCHLORIDE\DEXAMETHASONE
     Indication: Product used for unknown indication
     Route: 065
  832. NEXIUM 24HR [Suspect]
     Active Substance: ESOMEPRAZOLE MAGNESIUM
     Indication: Migraine
     Dosage: CAPSULE, DELAYED RELEASE
     Route: 065
  833. NEXIUM 24HR [Suspect]
     Active Substance: ESOMEPRAZOLE MAGNESIUM
     Route: 065
  834. VENLAFAXINE HYDROCHLORIDE [Suspect]
     Active Substance: VENLAFAXINE HYDROCHLORIDE
     Indication: Migraine
     Route: 065
  835. VENLAFAXINE HYDROCHLORIDE [Suspect]
     Active Substance: VENLAFAXINE HYDROCHLORIDE
     Route: 065
  836. VENLAFAXINE HYDROCHLORIDE [Suspect]
     Active Substance: VENLAFAXINE HYDROCHLORIDE
     Route: 065

REACTIONS (11)
  - Dysphonia [Unknown]
  - Drug intolerance [Unknown]
  - Hypersensitivity [Unknown]
  - Swelling face [Unknown]
  - Swollen tongue [Unknown]
  - Headache [Unknown]
  - Angioedema [Unknown]
  - Drug ineffective [Unknown]
  - Drug ineffective for unapproved indication [Unknown]
  - Product use in unapproved indication [Unknown]
  - Off label use [Unknown]
